FAERS Safety Report 24717891 (Version 4)
Quarter: 2025Q3

REPORT INFORMATION
  Report Type: Spontaneous
  Country: CA (occurrence: CA)
  Receive Date: 20241210
  Receipt Date: 20250915
  Transmission Date: 20251021
  Serious: Yes (Hospitalization, Other)
  Sender: MYLAN
  Company Number: CA-MYLANLABS-2024M1109495

PATIENT
  Age: 11 Year
  Sex: Male

DRUGS (584)
  1. CELECOXIB [Suspect]
     Active Substance: CELECOXIB
     Indication: Pain management
     Dosage: 100 MILLIGRAM, BID (2 EVERY 1 DAYS)
     Route: 048
  2. CELECOXIB [Suspect]
     Active Substance: CELECOXIB
     Indication: Back pain
     Dosage: 100 MILLIGRAM, BID (2 EVERY 1 DAYS)
  3. CELECOXIB [Suspect]
     Active Substance: CELECOXIB
     Dosage: 100 MILLIGRAM, BID (2 EVERY 1 DAYS)
  4. CELECOXIB [Suspect]
     Active Substance: CELECOXIB
     Dosage: 100 MILLIGRAM, BID (2 EVERY 1 DAYS)
     Route: 048
  5. CELECOXIB [Suspect]
     Active Substance: CELECOXIB
     Dosage: 100 MILLIGRAM, BID (1 EVERY 12 HOURS)
     Route: 048
  6. CELECOXIB [Suspect]
     Active Substance: CELECOXIB
     Dosage: 100 MILLIGRAM, BID (1 EVERY 12 HOURS)
  7. CELECOXIB [Suspect]
     Active Substance: CELECOXIB
     Dosage: 100 MILLIGRAM, BID (1 EVERY 12 HOURS)
  8. CELECOXIB [Suspect]
     Active Substance: CELECOXIB
     Dosage: 100 MILLIGRAM, BID (1 EVERY 12 HOURS)
     Route: 048
  9. CELECOXIB [Suspect]
     Active Substance: CELECOXIB
     Route: 065
  10. CELECOXIB [Suspect]
     Active Substance: CELECOXIB
     Route: 065
  11. CELECOXIB [Suspect]
     Active Substance: CELECOXIB
  12. CELECOXIB [Suspect]
     Active Substance: CELECOXIB
  13. GABAPENTIN [Suspect]
     Active Substance: GABAPENTIN
     Indication: Pain management
     Dosage: 600 MILLIGRAM, BID (2 EVERY 1 DAY)
     Route: 048
  14. GABAPENTIN [Suspect]
     Active Substance: GABAPENTIN
     Indication: Back pain
     Dosage: 600 MILLIGRAM, BID (2 EVERY 1 DAY)
  15. GABAPENTIN [Suspect]
     Active Substance: GABAPENTIN
     Dosage: 600 MILLIGRAM, BID (2 EVERY 1 DAY)
  16. GABAPENTIN [Suspect]
     Active Substance: GABAPENTIN
     Dosage: 600 MILLIGRAM, BID (2 EVERY 1 DAY)
     Route: 048
  17. GABAPENTIN [Suspect]
     Active Substance: GABAPENTIN
     Dosage: 600 MILLIGRAM, TID (3 EVERY 1 DAY)
     Route: 048
  18. GABAPENTIN [Suspect]
     Active Substance: GABAPENTIN
     Dosage: 600 MILLIGRAM, TID (3 EVERY 1 DAY)
     Route: 048
  19. GABAPENTIN [Suspect]
     Active Substance: GABAPENTIN
     Dosage: 600 MILLIGRAM, TID (3 EVERY 1 DAY)
  20. GABAPENTIN [Suspect]
     Active Substance: GABAPENTIN
     Dosage: 600 MILLIGRAM, TID (3 EVERY 1 DAY)
  21. GABAPENTIN [Suspect]
     Active Substance: GABAPENTIN
     Dosage: 300 MILLIGRAM, Q8H (1 EVERY 8 HOURS)
     Route: 048
  22. GABAPENTIN [Suspect]
     Active Substance: GABAPENTIN
     Dosage: 300 MILLIGRAM, Q8H (1 EVERY 8 HOURS)
     Route: 048
  23. GABAPENTIN [Suspect]
     Active Substance: GABAPENTIN
     Dosage: 300 MILLIGRAM, Q8H (1 EVERY 8 HOURS)
  24. GABAPENTIN [Suspect]
     Active Substance: GABAPENTIN
     Dosage: 300 MILLIGRAM, Q8H (1 EVERY 8 HOURS)
  25. GABAPENTIN [Suspect]
     Active Substance: GABAPENTIN
     Dosage: 600 MILLIGRAM, Q8H (1 EVERY 8 HOURS)
     Route: 048
  26. GABAPENTIN [Suspect]
     Active Substance: GABAPENTIN
     Dosage: 600 MILLIGRAM, Q8H (1 EVERY 8 HOURS)
  27. GABAPENTIN [Suspect]
     Active Substance: GABAPENTIN
     Dosage: 600 MILLIGRAM, Q8H (1 EVERY 8 HOURS)
  28. GABAPENTIN [Suspect]
     Active Substance: GABAPENTIN
     Dosage: 600 MILLIGRAM, Q8H (1 EVERY 8 HOURS)
     Route: 048
  29. VITAMIN C [Suspect]
     Active Substance: ASCORBIC ACID
     Indication: Product used for unknown indication
     Dosage: 1500 MILLIGRAM, QD (1 EVERY 1 DAY)
  30. VITAMIN C [Suspect]
     Active Substance: ASCORBIC ACID
     Dosage: 1500 MILLIGRAM, QD (1 EVERY 1 DAY)
     Route: 048
  31. VITAMIN C [Suspect]
     Active Substance: ASCORBIC ACID
     Dosage: 1500 MILLIGRAM, QD (1 EVERY 1 DAY)
     Route: 048
  32. VITAMIN C [Suspect]
     Active Substance: ASCORBIC ACID
     Dosage: 1500 MILLIGRAM, QD (1 EVERY 1 DAY)
  33. VITAMIN C [Suspect]
     Active Substance: ASCORBIC ACID
     Indication: Child abuse
     Dosage: 1500 MILLIGRAM, QD (1 EVERY 1 DAY)
  34. VITAMIN C [Suspect]
     Active Substance: ASCORBIC ACID
     Dosage: 1500 MILLIGRAM, QD (1 EVERY 1 DAY)
     Route: 048
  35. VITAMIN C [Suspect]
     Active Substance: ASCORBIC ACID
     Dosage: 1500 MILLIGRAM, QD (1 EVERY 1 DAY)
     Route: 048
  36. VITAMIN C [Suspect]
     Active Substance: ASCORBIC ACID
     Dosage: 1500 MILLIGRAM, QD (1 EVERY 1 DAY)
  37. ARIPIPRAZOLE [Suspect]
     Active Substance: ARIPIPRAZOLE
     Indication: Product used for unknown indication
     Dosage: 2 MILLIGRAM, TID (3 EVERY 1 DAY)
  38. ARIPIPRAZOLE [Suspect]
     Active Substance: ARIPIPRAZOLE
     Dosage: 2 MILLIGRAM, TID (3 EVERY 1 DAY)
     Route: 048
  39. ARIPIPRAZOLE [Suspect]
     Active Substance: ARIPIPRAZOLE
     Dosage: 2 MILLIGRAM, TID (3 EVERY 1 DAY)
     Route: 048
  40. ARIPIPRAZOLE [Suspect]
     Active Substance: ARIPIPRAZOLE
     Dosage: 2 MILLIGRAM, TID (3 EVERY 1 DAY)
  41. ARIPIPRAZOLE [Suspect]
     Active Substance: ARIPIPRAZOLE
     Dosage: 2 MILLIGRAM, Q8H (1 EVERY 8 HOURS)
     Route: 048
  42. ARIPIPRAZOLE [Suspect]
     Active Substance: ARIPIPRAZOLE
     Dosage: 2 MILLIGRAM, Q8H (1 EVERY 8 HOURS)
     Route: 048
  43. ARIPIPRAZOLE [Suspect]
     Active Substance: ARIPIPRAZOLE
     Dosage: 2 MILLIGRAM, Q8H (1 EVERY 8 HOURS)
  44. ARIPIPRAZOLE [Suspect]
     Active Substance: ARIPIPRAZOLE
     Dosage: 2 MILLIGRAM, Q8H (1 EVERY 8 HOURS)
  45. ARIPIPRAZOLE [Suspect]
     Active Substance: ARIPIPRAZOLE
     Dosage: 2 MILLIGRAM, QD (1 EVERY 1 DAYS)
  46. ARIPIPRAZOLE [Suspect]
     Active Substance: ARIPIPRAZOLE
     Dosage: 2 MILLIGRAM, QD (1 EVERY 1 DAYS)
     Route: 048
  47. ARIPIPRAZOLE [Suspect]
     Active Substance: ARIPIPRAZOLE
     Dosage: 2 MILLIGRAM, QD (1 EVERY 1 DAYS)
  48. ARIPIPRAZOLE [Suspect]
     Active Substance: ARIPIPRAZOLE
     Dosage: 2 MILLIGRAM, QD (1 EVERY 1 DAYS)
     Route: 048
  49. ARIPIPRAZOLE [Suspect]
     Active Substance: ARIPIPRAZOLE
     Indication: Product used for unknown indication
     Dosage: 2 MILLIGRAM, QD (1 EVERY 1 DAYS)
  50. ARIPIPRAZOLE [Suspect]
     Active Substance: ARIPIPRAZOLE
     Dosage: 2 MILLIGRAM, QD (1 EVERY 1 DAYS)
     Route: 048
  51. ARIPIPRAZOLE [Suspect]
     Active Substance: ARIPIPRAZOLE
     Dosage: 2 MILLIGRAM, QD (1 EVERY 1 DAYS)
     Route: 048
  52. ARIPIPRAZOLE [Suspect]
     Active Substance: ARIPIPRAZOLE
     Dosage: 2 MILLIGRAM, QD (1 EVERY 1 DAYS)
  53. BACLOFEN [Suspect]
     Active Substance: BACLOFEN
     Indication: Product used for unknown indication
     Dosage: 20 MILLIGRAM, TID (3 EVERY 1 DAY)
  54. BACLOFEN [Suspect]
     Active Substance: BACLOFEN
     Dosage: 20 MILLIGRAM, TID (3 EVERY 1 DAY)
  55. BACLOFEN [Suspect]
     Active Substance: BACLOFEN
     Dosage: 20 MILLIGRAM, TID (3 EVERY 1 DAY)
     Route: 048
  56. BACLOFEN [Suspect]
     Active Substance: BACLOFEN
     Dosage: 20 MILLIGRAM, TID (3 EVERY 1 DAY)
     Route: 048
  57. BACLOFEN [Suspect]
     Active Substance: BACLOFEN
     Dosage: 20 MILLIGRAM, Q8H (1 EVERY 8 HOURS)
  58. BACLOFEN [Suspect]
     Active Substance: BACLOFEN
     Dosage: 20 MILLIGRAM, Q8H (1 EVERY 8 HOURS)
  59. BACLOFEN [Suspect]
     Active Substance: BACLOFEN
     Dosage: 20 MILLIGRAM, Q8H (1 EVERY 8 HOURS)
     Route: 048
  60. BACLOFEN [Suspect]
     Active Substance: BACLOFEN
     Dosage: 20 MILLIGRAM, Q8H (1 EVERY 8 HOURS)
     Route: 048
  61. BISACODYL [Suspect]
     Active Substance: BISACODYL
     Indication: Product used for unknown indication
     Dosage: 5 MILLIGRAM, QD (1 EVERY 1 DAYS)
     Route: 065
  62. BISACODYL [Suspect]
     Active Substance: BISACODYL
     Dosage: 5 MILLIGRAM, QD (1 EVERY 1 DAYS)
  63. BISACODYL [Suspect]
     Active Substance: BISACODYL
     Dosage: 5 MILLIGRAM, QD (1 EVERY 1 DAYS)
  64. BISACODYL [Suspect]
     Active Substance: BISACODYL
     Dosage: 5 MILLIGRAM, QD (1 EVERY 1 DAYS)
     Route: 065
  65. BISACODYL [Suspect]
     Active Substance: BISACODYL
     Dosage: 5 MILLIGRAM, QD (1 EVERY 1 DAYS)
     Route: 048
  66. BISACODYL [Suspect]
     Active Substance: BISACODYL
     Dosage: 5 MILLIGRAM, QD (1 EVERY 1 DAYS)
  67. BISACODYL [Suspect]
     Active Substance: BISACODYL
     Dosage: 5 MILLIGRAM, QD (1 EVERY 1 DAYS)
  68. BISACODYL [Suspect]
     Active Substance: BISACODYL
     Dosage: 5 MILLIGRAM, QD (1 EVERY 1 DAYS)
     Route: 048
  69. CHOLECALCIFEROL [Suspect]
     Active Substance: CHOLECALCIFEROL
     Indication: Vitamin supplementation
  70. CHOLECALCIFEROL [Suspect]
     Active Substance: CHOLECALCIFEROL
     Route: 065
  71. CHOLECALCIFEROL [Suspect]
     Active Substance: CHOLECALCIFEROL
     Route: 065
  72. CHOLECALCIFEROL [Suspect]
     Active Substance: CHOLECALCIFEROL
  73. CHOLECALCIFEROL [Suspect]
     Active Substance: CHOLECALCIFEROL
     Indication: Vitamin supplementation
     Dosage: 2000 INTERNATIONAL UNIT, QD (1 EVERY 1 DAY)
  74. CHOLECALCIFEROL [Suspect]
     Active Substance: CHOLECALCIFEROL
     Dosage: 2000 INTERNATIONAL UNIT, QD (1 EVERY 1 DAY)
     Route: 048
  75. CHOLECALCIFEROL [Suspect]
     Active Substance: CHOLECALCIFEROL
     Dosage: 2000 INTERNATIONAL UNIT, QD (1 EVERY 1 DAY)
     Route: 048
  76. CHOLECALCIFEROL [Suspect]
     Active Substance: CHOLECALCIFEROL
     Dosage: 2000 INTERNATIONAL UNIT, QD (1 EVERY 1 DAY)
  77. CLOBAZAM [Suspect]
     Active Substance: CLOBAZAM
     Indication: Back pain
     Dosage: 20 MILLIGRAM, BID (2 EVERY 1 DAYS)
     Route: 048
  78. CLOBAZAM [Suspect]
     Active Substance: CLOBAZAM
     Dosage: 20 MILLIGRAM, BID (2 EVERY 1 DAYS)
  79. CLOBAZAM [Suspect]
     Active Substance: CLOBAZAM
     Dosage: 20 MILLIGRAM, BID (2 EVERY 1 DAYS)
  80. CLOBAZAM [Suspect]
     Active Substance: CLOBAZAM
     Dosage: 20 MILLIGRAM, BID (2 EVERY 1 DAYS)
     Route: 048
  81. CLOBAZAM [Suspect]
     Active Substance: CLOBAZAM
     Dosage: 20 MILLIGRAM, BID (1 EVERY 12 HOURS)
     Route: 048
  82. CLOBAZAM [Suspect]
     Active Substance: CLOBAZAM
     Dosage: 20 MILLIGRAM, BID (1 EVERY 12 HOURS)
  83. CLOBAZAM [Suspect]
     Active Substance: CLOBAZAM
     Dosage: 20 MILLIGRAM, BID (1 EVERY 12 HOURS)
  84. CLOBAZAM [Suspect]
     Active Substance: CLOBAZAM
     Dosage: 20 MILLIGRAM, BID (1 EVERY 12 HOURS)
     Route: 048
  85. CLONIDINE [Suspect]
     Active Substance: CLONIDINE
     Indication: Product used for unknown indication
     Dosage: 0.05 MILLIGRAM, QD (1 EVERY 1 DAY)
  86. CLONIDINE [Suspect]
     Active Substance: CLONIDINE
     Dosage: 0.05 MILLIGRAM, QD (1 EVERY 1 DAY)
  87. CLONIDINE [Suspect]
     Active Substance: CLONIDINE
     Dosage: 0.05 MILLIGRAM, QD (1 EVERY 1 DAY)
     Route: 048
  88. CLONIDINE [Suspect]
     Active Substance: CLONIDINE
     Dosage: 0.05 MILLIGRAM, QD (1 EVERY 1 DAY)
     Route: 048
  89. CLONIDINE [Suspect]
     Active Substance: CLONIDINE
     Dosage: 0.1 MILLIGRAM, QD (1 EVERY 1 DAY)
  90. CLONIDINE [Suspect]
     Active Substance: CLONIDINE
     Dosage: 0.1 MILLIGRAM, QD (1 EVERY 1 DAY)
  91. CLONIDINE [Suspect]
     Active Substance: CLONIDINE
     Dosage: 0.1 MILLIGRAM, QD (1 EVERY 1 DAY)
     Route: 048
  92. CLONIDINE [Suspect]
     Active Substance: CLONIDINE
     Dosage: 0.1 MILLIGRAM, QD (1 EVERY 1 DAY)
     Route: 048
  93. DIMENHYDRINATE [Suspect]
     Active Substance: DIMENHYDRINATE
     Indication: Constipation
     Dosage: 25 MILLIGRAM, QD (1 EVERY 1 DAYS)
  94. DIMENHYDRINATE [Suspect]
     Active Substance: DIMENHYDRINATE
     Dosage: 25 MILLIGRAM, QD (1 EVERY 1 DAYS)
  95. DIMENHYDRINATE [Suspect]
     Active Substance: DIMENHYDRINATE
     Dosage: 25 MILLIGRAM, QD (1 EVERY 1 DAYS)
     Route: 048
  96. DIMENHYDRINATE [Suspect]
     Active Substance: DIMENHYDRINATE
     Dosage: 25 MILLIGRAM, QD (1 EVERY 1 DAYS)
     Route: 048
  97. DIMENHYDRINATE [Suspect]
     Active Substance: DIMENHYDRINATE
     Dosage: 20 MILLIGRAM, QD (1 EVERY 1 DAYS)
  98. DIMENHYDRINATE [Suspect]
     Active Substance: DIMENHYDRINATE
     Dosage: 20 MILLIGRAM, QD (1 EVERY 1 DAYS)
  99. DIMENHYDRINATE [Suspect]
     Active Substance: DIMENHYDRINATE
     Dosage: 20 MILLIGRAM, QD (1 EVERY 1 DAYS)
     Route: 048
  100. DIMENHYDRINATE [Suspect]
     Active Substance: DIMENHYDRINATE
     Dosage: 20 MILLIGRAM, QD (1 EVERY 1 DAYS)
     Route: 048
  101. DIMENHYDRINATE [Suspect]
     Active Substance: DIMENHYDRINATE
     Indication: Constipation
     Dosage: 25 MILLIGRAM, QD (1 EVERY 1 DAYS)
  102. DIMENHYDRINATE [Suspect]
     Active Substance: DIMENHYDRINATE
     Indication: Pruritus
     Dosage: 25 MILLIGRAM, QD (1 EVERY 1 DAYS)
  103. DIMENHYDRINATE [Suspect]
     Active Substance: DIMENHYDRINATE
     Dosage: 25 MILLIGRAM, QD (1 EVERY 1 DAYS)
     Route: 048
  104. DIMENHYDRINATE [Suspect]
     Active Substance: DIMENHYDRINATE
     Dosage: 25 MILLIGRAM, QD (1 EVERY 1 DAYS)
     Route: 048
  105. DIMENHYDRINATE [Suspect]
     Active Substance: DIMENHYDRINATE
     Dosage: 20 MILLIGRAM, QD (1 EVERY 1 DAYS)
  106. DIMENHYDRINATE [Suspect]
     Active Substance: DIMENHYDRINATE
     Dosage: 20 MILLIGRAM, QD (1 EVERY 1 DAYS)
  107. DIMENHYDRINATE [Suspect]
     Active Substance: DIMENHYDRINATE
     Dosage: 20 MILLIGRAM, QD (1 EVERY 1 DAYS)
     Route: 048
  108. DIMENHYDRINATE [Suspect]
     Active Substance: DIMENHYDRINATE
     Dosage: 20 MILLIGRAM, QD (1 EVERY 1 DAYS)
     Route: 048
  109. DIMENHYDRINATE [Suspect]
     Active Substance: DIMENHYDRINATE
     Dosage: 12.5 MILLIGRAM, QID (4 EVERY 1 DAYS)
  110. DIMENHYDRINATE [Suspect]
     Active Substance: DIMENHYDRINATE
     Dosage: 12.5 MILLIGRAM, QID (4 EVERY 1 DAYS)
     Route: 048
  111. DIMENHYDRINATE [Suspect]
     Active Substance: DIMENHYDRINATE
     Dosage: 12.5 MILLIGRAM, QID (4 EVERY 1 DAYS)
  112. DIMENHYDRINATE [Suspect]
     Active Substance: DIMENHYDRINATE
     Dosage: 12.5 MILLIGRAM, QID (4 EVERY 1 DAYS)
     Route: 048
  113. DIPHENHYDRAMINE [Suspect]
     Active Substance: DIPHENHYDRAMINE
     Indication: Pruritus
     Dosage: 12.5 MILLIGRAM, QID (4 EVERY 1 DAY)
     Route: 048
  114. DIPHENHYDRAMINE [Suspect]
     Active Substance: DIPHENHYDRAMINE
     Dosage: 12.5 MILLIGRAM, QID (4 EVERY 1 DAY)
  115. DIPHENHYDRAMINE [Suspect]
     Active Substance: DIPHENHYDRAMINE
     Dosage: 12.5 MILLIGRAM, QID (4 EVERY 1 DAY)
  116. DIPHENHYDRAMINE [Suspect]
     Active Substance: DIPHENHYDRAMINE
     Dosage: 12.5 MILLIGRAM, QID (4 EVERY 1 DAY)
     Route: 048
  117. DIPHENHYDRAMINE [Suspect]
     Active Substance: DIPHENHYDRAMINE
     Dosage: 12.5 MILLIGRAM, Q6H (1 EVERY 6 HOURS)
     Route: 048
  118. DIPHENHYDRAMINE [Suspect]
     Active Substance: DIPHENHYDRAMINE
     Dosage: 12.5 MILLIGRAM, Q6H (1 EVERY 6 HOURS)
  119. DIPHENHYDRAMINE [Suspect]
     Active Substance: DIPHENHYDRAMINE
     Dosage: 12.5 MILLIGRAM, Q6H (1 EVERY 6 HOURS)
  120. DIPHENHYDRAMINE [Suspect]
     Active Substance: DIPHENHYDRAMINE
     Dosage: 12.5 MILLIGRAM, Q6H (1 EVERY 6 HOURS)
     Route: 048
  121. DOCONEXENT [Suspect]
     Active Substance: DOCONEXENT
     Indication: Product used for unknown indication
  122. DOCONEXENT [Suspect]
     Active Substance: DOCONEXENT
     Route: 065
  123. DOCONEXENT [Suspect]
     Active Substance: DOCONEXENT
     Route: 065
  124. DOCONEXENT [Suspect]
     Active Substance: DOCONEXENT
  125. DULCOLAX (BISACODYL) [Suspect]
     Active Substance: BISACODYL
     Indication: Product used for unknown indication
     Dosage: 5 MILLIGRAM, QD (1 EVERY 1 DAYS)
  126. DULCOLAX (BISACODYL) [Suspect]
     Active Substance: BISACODYL
     Dosage: 5 MILLIGRAM, QD (1 EVERY 1 DAYS)
     Route: 048
  127. DULCOLAX (BISACODYL) [Suspect]
     Active Substance: BISACODYL
     Dosage: 5 MILLIGRAM, QD (1 EVERY 1 DAYS)
     Route: 048
  128. DULCOLAX (BISACODYL) [Suspect]
     Active Substance: BISACODYL
     Dosage: 5 MILLIGRAM, QD (1 EVERY 1 DAYS)
  129. ELIGARD [Suspect]
     Active Substance: LEUPROLIDE ACETATE
     Indication: Precocious puberty
     Dosage: 7.5 MILLIGRAM, MONTHLY (1 EVERY 1 MONTH)
  130. ELIGARD [Suspect]
     Active Substance: LEUPROLIDE ACETATE
     Dosage: 7.5 MILLIGRAM, MONTHLY (1 EVERY 1 MONTH)
     Route: 030
  131. ELIGARD [Suspect]
     Active Substance: LEUPROLIDE ACETATE
     Dosage: 7.5 MILLIGRAM, MONTHLY (1 EVERY 1 MONTH)
     Route: 030
  132. ELIGARD [Suspect]
     Active Substance: LEUPROLIDE ACETATE
     Dosage: 7.5 MILLIGRAM, MONTHLY (1 EVERY 1 MONTH)
  133. ELIGARD [Suspect]
     Active Substance: LEUPROLIDE ACETATE
     Indication: Precocious puberty
  134. ELIGARD [Suspect]
     Active Substance: LEUPROLIDE ACETATE
     Route: 058
  135. ELIGARD [Suspect]
     Active Substance: LEUPROLIDE ACETATE
     Route: 058
  136. ELIGARD [Suspect]
     Active Substance: LEUPROLIDE ACETATE
  137. ELIGARD [Suspect]
     Active Substance: LEUPROLIDE ACETATE
     Indication: Product used for unknown indication
  138. ELIGARD [Suspect]
     Active Substance: LEUPROLIDE ACETATE
  139. ELIGARD [Suspect]
     Active Substance: LEUPROLIDE ACETATE
     Route: 030
  140. ELIGARD [Suspect]
     Active Substance: LEUPROLIDE ACETATE
     Route: 030
  141. ELIGARD [Suspect]
     Active Substance: LEUPROLIDE ACETATE
  142. ELIGARD [Suspect]
     Active Substance: LEUPROLIDE ACETATE
  143. ELIGARD [Suspect]
     Active Substance: LEUPROLIDE ACETATE
     Route: 058
  144. ELIGARD [Suspect]
     Active Substance: LEUPROLIDE ACETATE
     Route: 058
  145. ELIGARD [Suspect]
     Active Substance: LEUPROLIDE ACETATE
     Indication: Precocious puberty
  146. ELIGARD [Suspect]
     Active Substance: LEUPROLIDE ACETATE
  147. ELIGARD [Suspect]
     Active Substance: LEUPROLIDE ACETATE
     Route: 058
  148. ELIGARD [Suspect]
     Active Substance: LEUPROLIDE ACETATE
     Route: 058
  149. ELIGARD [Suspect]
     Active Substance: LEUPROLIDE ACETATE
  150. ELIGARD [Suspect]
     Active Substance: LEUPROLIDE ACETATE
  151. ELIGARD [Suspect]
     Active Substance: LEUPROLIDE ACETATE
     Route: 030
  152. ELIGARD [Suspect]
     Active Substance: LEUPROLIDE ACETATE
     Route: 030
  153. FLUOXETINE [Suspect]
     Active Substance: FLUOXETINE HYDROCHLORIDE
     Indication: Product used for unknown indication
     Dosage: 20 MILLIGRAM, QD (1 EVERY 1 DAYS)
  154. FLUOXETINE [Suspect]
     Active Substance: FLUOXETINE HYDROCHLORIDE
     Dosage: 20 MILLIGRAM, QD (1 EVERY 1 DAYS)
     Route: 048
  155. FLUOXETINE [Suspect]
     Active Substance: FLUOXETINE HYDROCHLORIDE
     Dosage: 20 MILLIGRAM, QD (1 EVERY 1 DAYS)
     Route: 048
  156. FLUOXETINE [Suspect]
     Active Substance: FLUOXETINE HYDROCHLORIDE
     Dosage: 20 MILLIGRAM, QD (1 EVERY 1 DAYS)
  157. FLUTICASONE [Suspect]
     Active Substance: FLUTICASONE
     Indication: Product used for unknown indication
     Dosage: 250 MICROGRAM, QD (1 EVERY 1 DAY)
     Route: 065
  158. FLUTICASONE [Suspect]
     Active Substance: FLUTICASONE
     Dosage: 250 MICROGRAM, QD (1 EVERY 1 DAY)
  159. FLUTICASONE [Suspect]
     Active Substance: FLUTICASONE
     Dosage: 250 MICROGRAM, QD (1 EVERY 1 DAY)
  160. FLUTICASONE [Suspect]
     Active Substance: FLUTICASONE
     Dosage: 250 MICROGRAM, QD (1 EVERY 1 DAY)
     Route: 065
  161. FLUTICASONE [Suspect]
     Active Substance: FLUTICASONE
     Dosage: 1 DOSAGE FORM, QD (1 EVERY 1 DAYS)
     Route: 065
  162. FLUTICASONE [Suspect]
     Active Substance: FLUTICASONE
     Dosage: 1 DOSAGE FORM, QD (1 EVERY 1 DAYS)
  163. FLUTICASONE [Suspect]
     Active Substance: FLUTICASONE
     Dosage: 1 DOSAGE FORM, QD (1 EVERY 1 DAYS)
  164. FLUTICASONE [Suspect]
     Active Substance: FLUTICASONE
     Dosage: 1 DOSAGE FORM, QD (1 EVERY 1 DAYS)
     Route: 065
  165. FLUTICASONE [Suspect]
     Active Substance: FLUTICASONE
     Dosage: 2 DOSAGE FORM, QD (1 EVERY 1 DAYS)
     Route: 065
  166. FLUTICASONE [Suspect]
     Active Substance: FLUTICASONE
     Dosage: 2 DOSAGE FORM, QD (1 EVERY 1 DAYS)
  167. FLUTICASONE [Suspect]
     Active Substance: FLUTICASONE
     Dosage: 2 DOSAGE FORM, QD (1 EVERY 1 DAYS)
  168. FLUTICASONE [Suspect]
     Active Substance: FLUTICASONE
     Dosage: 2 DOSAGE FORM, QD (1 EVERY 1 DAYS)
     Route: 065
  169. FLUTICASONE [Suspect]
     Active Substance: FLUTICASONE
     Dosage: 250 MICROGRAM, QD (1 EVERY 1 DAY)
  170. FLUTICASONE [Suspect]
     Active Substance: FLUTICASONE
     Dosage: 250 MICROGRAM, QD (1 EVERY 1 DAY)
     Route: 048
  171. FLUTICASONE [Suspect]
     Active Substance: FLUTICASONE
     Dosage: 250 MICROGRAM, QD (1 EVERY 1 DAY)
     Route: 048
  172. FLUTICASONE [Suspect]
     Active Substance: FLUTICASONE
     Dosage: 250 MICROGRAM, QD (1 EVERY 1 DAY)
  173. FLUTICASONE [Suspect]
     Active Substance: FLUTICASONE
     Dosage: UNK, QD (1 EVERY 1 DAYS)
     Route: 065
  174. FLUTICASONE [Suspect]
     Active Substance: FLUTICASONE
     Dosage: UNK, QD (1 EVERY 1 DAYS)
     Route: 065
  175. FLUTICASONE [Suspect]
     Active Substance: FLUTICASONE
     Dosage: UNK, QD (1 EVERY 1 DAYS)
  176. FLUTICASONE [Suspect]
     Active Substance: FLUTICASONE
     Dosage: UNK, QD (1 EVERY 1 DAYS)
  177. FLUTICASONE [Suspect]
     Active Substance: FLUTICASONE
     Dosage: UNK, QD (1 EVERY 1 DAYS)
  178. FLUTICASONE [Suspect]
     Active Substance: FLUTICASONE
     Dosage: UNK, QD (1 EVERY 1 DAYS)
  179. FLUTICASONE [Suspect]
     Active Substance: FLUTICASONE
     Dosage: UNK, QD (1 EVERY 1 DAYS)
     Route: 055
  180. FLUTICASONE [Suspect]
     Active Substance: FLUTICASONE
     Dosage: UNK, QD (1 EVERY 1 DAYS)
     Route: 055
  181. HYDROXYCHLOROQUINE [Suspect]
     Active Substance: HYDROXYCHLOROQUINE
     Indication: Child abuse
     Dosage: 400 MILLIGRAM, QD (1 EVERY 1 DAYS)
  182. HYDROXYCHLOROQUINE [Suspect]
     Active Substance: HYDROXYCHLOROQUINE
     Dosage: 400 MILLIGRAM, QD (1 EVERY 1 DAYS)
     Route: 048
  183. HYDROXYCHLOROQUINE [Suspect]
     Active Substance: HYDROXYCHLOROQUINE
     Dosage: 400 MILLIGRAM, QD (1 EVERY 1 DAYS)
     Route: 048
  184. HYDROXYCHLOROQUINE [Suspect]
     Active Substance: HYDROXYCHLOROQUINE
     Dosage: 400 MILLIGRAM, QD (1 EVERY 1 DAYS)
  185. KETOROLAC [Suspect]
     Active Substance: KETOROLAC TROMETHAMINE
     Indication: Pain
  186. KETOROLAC [Suspect]
     Active Substance: KETOROLAC TROMETHAMINE
     Route: 065
  187. KETOROLAC [Suspect]
     Active Substance: KETOROLAC TROMETHAMINE
     Route: 065
  188. KETOROLAC [Suspect]
     Active Substance: KETOROLAC TROMETHAMINE
  189. KETOROLAC [Suspect]
     Active Substance: KETOROLAC TROMETHAMINE
     Dosage: 20 MILLIGRAM, QID (4 EVERY 1 DAYS)
  190. KETOROLAC [Suspect]
     Active Substance: KETOROLAC TROMETHAMINE
     Dosage: 20 MILLIGRAM, QID (4 EVERY 1 DAYS)
     Route: 048
  191. KETOROLAC [Suspect]
     Active Substance: KETOROLAC TROMETHAMINE
     Dosage: 20 MILLIGRAM, QID (4 EVERY 1 DAYS)
  192. KETOROLAC [Suspect]
     Active Substance: KETOROLAC TROMETHAMINE
     Dosage: 20 MILLIGRAM, QID (4 EVERY 1 DAYS)
     Route: 048
  193. KETOROLAC [Suspect]
     Active Substance: KETOROLAC TROMETHAMINE
     Dosage: 20 MILLIGRAM, Q6H (1 EVERY 6 HOUR)
     Route: 048
  194. KETOROLAC [Suspect]
     Active Substance: KETOROLAC TROMETHAMINE
     Dosage: 20 MILLIGRAM, Q6H (1 EVERY 6 HOUR)
     Route: 048
  195. KETOROLAC [Suspect]
     Active Substance: KETOROLAC TROMETHAMINE
     Dosage: 20 MILLIGRAM, Q6H (1 EVERY 6 HOUR)
  196. KETOROLAC [Suspect]
     Active Substance: KETOROLAC TROMETHAMINE
     Dosage: 20 MILLIGRAM, Q6H (1 EVERY 6 HOUR)
  197. ACETAMINOPHEN\METHOCARBAMOL [Suspect]
     Active Substance: ACETAMINOPHEN\METHOCARBAMOL
     Indication: Back pain
     Dosage: 400 MILLIGRAM, BID (2 EVERY 1 DAY)
  198. ACETAMINOPHEN\METHOCARBAMOL [Suspect]
     Active Substance: ACETAMINOPHEN\METHOCARBAMOL
     Dosage: 400 MILLIGRAM, BID (2 EVERY 1 DAY)
     Route: 048
  199. ACETAMINOPHEN\METHOCARBAMOL [Suspect]
     Active Substance: ACETAMINOPHEN\METHOCARBAMOL
     Dosage: 400 MILLIGRAM, BID (2 EVERY 1 DAY)
     Route: 048
  200. ACETAMINOPHEN\METHOCARBAMOL [Suspect]
     Active Substance: ACETAMINOPHEN\METHOCARBAMOL
     Dosage: 400 MILLIGRAM, BID (2 EVERY 1 DAY)
  201. FISH OIL [Suspect]
     Active Substance: FISH OIL
     Indication: Product used for unknown indication
     Dosage: 200 MILLIGRAM, QD (1 EVERY 1 DAYS)
  202. FISH OIL [Suspect]
     Active Substance: FISH OIL
     Dosage: 200 MILLIGRAM, QD (1 EVERY 1 DAYS)
     Route: 048
  203. FISH OIL [Suspect]
     Active Substance: FISH OIL
     Dosage: 200 MILLIGRAM, QD (1 EVERY 1 DAYS)
     Route: 048
  204. FISH OIL [Suspect]
     Active Substance: FISH OIL
     Dosage: 200 MILLIGRAM, QD (1 EVERY 1 DAYS)
  205. FLUOXETINE HYDROCHLORIDE [Suspect]
     Active Substance: FLUOXETINE HYDROCHLORIDE
     Indication: Product used for unknown indication
     Dosage: 20 MILLIGRAM, QD (1 EVERY 1 DAYS)
  206. FLUOXETINE HYDROCHLORIDE [Suspect]
     Active Substance: FLUOXETINE HYDROCHLORIDE
     Dosage: 20 MILLIGRAM, QD (1 EVERY 1 DAYS)
     Route: 048
  207. FLUOXETINE HYDROCHLORIDE [Suspect]
     Active Substance: FLUOXETINE HYDROCHLORIDE
     Dosage: 20 MILLIGRAM, QD (1 EVERY 1 DAYS)
     Route: 048
  208. FLUOXETINE HYDROCHLORIDE [Suspect]
     Active Substance: FLUOXETINE HYDROCHLORIDE
     Dosage: 20 MILLIGRAM, QD (1 EVERY 1 DAYS)
  209. HYDROMORPHONE [Suspect]
     Active Substance: HYDROMORPHONE
     Indication: Pain management
  210. HYDROMORPHONE [Suspect]
     Active Substance: HYDROMORPHONE
     Indication: Back pain
     Route: 065
  211. HYDROMORPHONE [Suspect]
     Active Substance: HYDROMORPHONE
     Route: 065
  212. HYDROMORPHONE [Suspect]
     Active Substance: HYDROMORPHONE
  213. HYDROMORPHONE HYDROCHLORIDE [Suspect]
     Active Substance: HYDROMORPHONE HYDROCHLORIDE
     Indication: Pain management
  214. HYDROMORPHONE HYDROCHLORIDE [Suspect]
     Active Substance: HYDROMORPHONE HYDROCHLORIDE
     Indication: Back pain
  215. HYDROMORPHONE HYDROCHLORIDE [Suspect]
     Active Substance: HYDROMORPHONE HYDROCHLORIDE
     Route: 060
  216. HYDROMORPHONE HYDROCHLORIDE [Suspect]
     Active Substance: HYDROMORPHONE HYDROCHLORIDE
     Route: 060
  217. HYDROMORPHONE HYDROCHLORIDE [Suspect]
     Active Substance: HYDROMORPHONE HYDROCHLORIDE
  218. HYDROMORPHONE HYDROCHLORIDE [Suspect]
     Active Substance: HYDROMORPHONE HYDROCHLORIDE
  219. HYDROMORPHONE HYDROCHLORIDE [Suspect]
     Active Substance: HYDROMORPHONE HYDROCHLORIDE
     Route: 065
  220. HYDROMORPHONE HYDROCHLORIDE [Suspect]
     Active Substance: HYDROMORPHONE HYDROCHLORIDE
     Route: 065
  221. HYDROMORPHONE HYDROCHLORIDE [Suspect]
     Active Substance: HYDROMORPHONE HYDROCHLORIDE
     Indication: Pain management
  222. HYDROMORPHONE HYDROCHLORIDE [Suspect]
     Active Substance: HYDROMORPHONE HYDROCHLORIDE
     Indication: Back pain
  223. HYDROMORPHONE HYDROCHLORIDE [Suspect]
     Active Substance: HYDROMORPHONE HYDROCHLORIDE
     Route: 065
  224. HYDROMORPHONE HYDROCHLORIDE [Suspect]
     Active Substance: HYDROMORPHONE HYDROCHLORIDE
     Route: 065
  225. HYDROMORPHONE HYDROCHLORIDE [Suspect]
     Active Substance: HYDROMORPHONE HYDROCHLORIDE
  226. HYDROMORPHONE HYDROCHLORIDE [Suspect]
     Active Substance: HYDROMORPHONE HYDROCHLORIDE
  227. HYDROMORPHONE HYDROCHLORIDE [Suspect]
     Active Substance: HYDROMORPHONE HYDROCHLORIDE
     Route: 060
  228. HYDROMORPHONE HYDROCHLORIDE [Suspect]
     Active Substance: HYDROMORPHONE HYDROCHLORIDE
     Route: 060
  229. LEUPROLIDE [Suspect]
     Active Substance: LEUPROLIDE
     Indication: Product used for unknown indication
     Route: 030
  230. LEUPROLIDE [Suspect]
     Active Substance: LEUPROLIDE
  231. LEUPROLIDE [Suspect]
     Active Substance: LEUPROLIDE
  232. LEUPROLIDE [Suspect]
     Active Substance: LEUPROLIDE
     Route: 030
  233. LEUPROLIDE [Suspect]
     Active Substance: LEUPROLIDE
     Dosage: 7.5 MILLIGRAM, QD (1 EVERY 1 DAYS)
     Route: 030
  234. LEUPROLIDE [Suspect]
     Active Substance: LEUPROLIDE
     Dosage: 7.5 MILLIGRAM, QD (1 EVERY 1 DAYS)
  235. LEUPROLIDE [Suspect]
     Active Substance: LEUPROLIDE
     Dosage: 7.5 MILLIGRAM, QD (1 EVERY 1 DAYS)
  236. LEUPROLIDE [Suspect]
     Active Substance: LEUPROLIDE
     Dosage: 7.5 MILLIGRAM, QD (1 EVERY 1 DAYS)
     Route: 030
  237. LEUPROLIDE ACETATE [Suspect]
     Active Substance: LEUPROLIDE ACETATE
     Indication: Product used for unknown indication
     Dosage: 7.5 MILLIGRAM, MONTHLY (1 EVERY 1 MONTH)
     Route: 030
  238. LEUPROLIDE ACETATE [Suspect]
     Active Substance: LEUPROLIDE ACETATE
     Dosage: 7.5 MILLIGRAM, MONTHLY (1 EVERY 1 MONTH)
  239. LEUPROLIDE ACETATE [Suspect]
     Active Substance: LEUPROLIDE ACETATE
     Dosage: 7.5 MILLIGRAM, MONTHLY (1 EVERY 1 MONTH)
  240. LEUPROLIDE ACETATE [Suspect]
     Active Substance: LEUPROLIDE ACETATE
     Dosage: 7.5 MILLIGRAM, MONTHLY (1 EVERY 1 MONTH)
     Route: 030
  241. LEUPROLIDE ACETATE [Suspect]
     Active Substance: LEUPROLIDE ACETATE
     Dosage: 0.25 MILLIGRAM, QD (1 EVERY 1 DAYS)
     Route: 030
  242. LEUPROLIDE ACETATE [Suspect]
     Active Substance: LEUPROLIDE ACETATE
     Dosage: 0.25 MILLIGRAM, QD (1 EVERY 1 DAYS)
  243. LEUPROLIDE ACETATE [Suspect]
     Active Substance: LEUPROLIDE ACETATE
     Dosage: 0.25 MILLIGRAM, QD (1 EVERY 1 DAYS)
  244. LEUPROLIDE ACETATE [Suspect]
     Active Substance: LEUPROLIDE ACETATE
     Dosage: 0.25 MILLIGRAM, QD (1 EVERY 1 DAYS)
     Route: 030
  245. LORAZEPAM [Suspect]
     Active Substance: LORAZEPAM
     Indication: Seizure
     Route: 060
  246. LORAZEPAM [Suspect]
     Active Substance: LORAZEPAM
     Indication: Pain management
  247. LORAZEPAM [Suspect]
     Active Substance: LORAZEPAM
     Indication: Muscle spasms
  248. LORAZEPAM [Suspect]
     Active Substance: LORAZEPAM
     Indication: Back pain
     Route: 060
  249. LORAZEPAM [Suspect]
     Active Substance: LORAZEPAM
     Route: 060
  250. LORAZEPAM [Suspect]
     Active Substance: LORAZEPAM
  251. LORAZEPAM [Suspect]
     Active Substance: LORAZEPAM
  252. LORAZEPAM [Suspect]
     Active Substance: LORAZEPAM
     Route: 060
  253. LORAZEPAM [Suspect]
     Active Substance: LORAZEPAM
  254. LORAZEPAM [Suspect]
     Active Substance: LORAZEPAM
  255. LORAZEPAM [Suspect]
     Active Substance: LORAZEPAM
     Route: 065
  256. LORAZEPAM [Suspect]
     Active Substance: LORAZEPAM
     Route: 065
  257. LORAZEPAM [Suspect]
     Active Substance: LORAZEPAM
     Dosage: 7.5 MILLIGRAM, MONTHLY (1 EVERY 1 MONTH)
  258. LORAZEPAM [Suspect]
     Active Substance: LORAZEPAM
     Dosage: 7.5 MILLIGRAM, MONTHLY (1 EVERY 1 MONTH)
  259. LORAZEPAM [Suspect]
     Active Substance: LORAZEPAM
     Dosage: 7.5 MILLIGRAM, MONTHLY (1 EVERY 1 MONTH)
     Route: 060
  260. LORAZEPAM [Suspect]
     Active Substance: LORAZEPAM
     Dosage: 7.5 MILLIGRAM, MONTHLY (1 EVERY 1 MONTH)
     Route: 060
  261. LORAZEPAM [Suspect]
     Active Substance: LORAZEPAM
     Indication: Seizure
  262. LORAZEPAM [Suspect]
     Active Substance: LORAZEPAM
     Indication: Pain management
  263. LORAZEPAM [Suspect]
     Active Substance: LORAZEPAM
     Indication: Muscle spasms
     Route: 060
  264. LORAZEPAM [Suspect]
     Active Substance: LORAZEPAM
     Indication: Back pain
     Route: 060
  265. LORAZEPAM [Suspect]
     Active Substance: LORAZEPAM
  266. LORAZEPAM [Suspect]
     Active Substance: LORAZEPAM
  267. LORAZEPAM [Suspect]
     Active Substance: LORAZEPAM
     Route: 060
  268. LORAZEPAM [Suspect]
     Active Substance: LORAZEPAM
     Route: 060
  269. LORAZEPAM [Suspect]
     Active Substance: LORAZEPAM
     Dosage: 2 MILLIGRAM, QD (1 EVERY 1 DAYS)
  270. LORAZEPAM [Suspect]
     Active Substance: LORAZEPAM
     Dosage: 2 MILLIGRAM, QD (1 EVERY 1 DAYS)
  271. LORAZEPAM [Suspect]
     Active Substance: LORAZEPAM
     Dosage: 2 MILLIGRAM, QD (1 EVERY 1 DAYS)
     Route: 060
  272. LORAZEPAM [Suspect]
     Active Substance: LORAZEPAM
     Dosage: 2 MILLIGRAM, QD (1 EVERY 1 DAYS)
     Route: 060
  273. LORAZEPAM [Suspect]
     Active Substance: LORAZEPAM
     Dosage: 0.5 MILLIGRAM, QD (1 EVERY 1 DAY)
  274. LORAZEPAM [Suspect]
     Active Substance: LORAZEPAM
     Dosage: 0.5 MILLIGRAM, QD (1 EVERY 1 DAY)
  275. LORAZEPAM [Suspect]
     Active Substance: LORAZEPAM
     Dosage: 0.5 MILLIGRAM, QD (1 EVERY 1 DAY)
     Route: 060
  276. LORAZEPAM [Suspect]
     Active Substance: LORAZEPAM
     Dosage: 0.5 MILLIGRAM, QD (1 EVERY 1 DAY)
     Route: 060
  277. LORAZEPAM [Suspect]
     Active Substance: LORAZEPAM
  278. LORAZEPAM [Suspect]
     Active Substance: LORAZEPAM
     Route: 065
  279. LORAZEPAM [Suspect]
     Active Substance: LORAZEPAM
  280. LORAZEPAM [Suspect]
     Active Substance: LORAZEPAM
     Route: 065
  281. POLYETHYLENE GLYCOLS [Suspect]
     Active Substance: POLYETHYLENE GLYCOLS
     Indication: Product used for unknown indication
     Dosage: 30 MILLIGRAM, BID (2 EVERY 1 DAY)
  282. POLYETHYLENE GLYCOLS [Suspect]
     Active Substance: POLYETHYLENE GLYCOLS
     Dosage: 30 MILLIGRAM, BID (2 EVERY 1 DAY)
     Route: 048
  283. POLYETHYLENE GLYCOLS [Suspect]
     Active Substance: POLYETHYLENE GLYCOLS
     Dosage: 30 MILLIGRAM, BID (2 EVERY 1 DAY)
     Route: 048
  284. POLYETHYLENE GLYCOLS [Suspect]
     Active Substance: POLYETHYLENE GLYCOLS
     Dosage: 30 MILLIGRAM, BID (2 EVERY 1 DAY)
  285. POLYETHYLENE GLYCOL 3350 [Suspect]
     Active Substance: POLYETHYLENE GLYCOL 3350
     Indication: Product used for unknown indication
     Dosage: 30 MILLIGRAM, BID (2 EVERY 1 DAY)
  286. POLYETHYLENE GLYCOL 3350 [Suspect]
     Active Substance: POLYETHYLENE GLYCOL 3350
     Dosage: 30 MILLIGRAM, BID (2 EVERY 1 DAY)
     Route: 048
  287. POLYETHYLENE GLYCOL 3350 [Suspect]
     Active Substance: POLYETHYLENE GLYCOL 3350
     Dosage: 30 MILLIGRAM, BID (2 EVERY 1 DAY)
     Route: 048
  288. POLYETHYLENE GLYCOL 3350 [Suspect]
     Active Substance: POLYETHYLENE GLYCOL 3350
     Dosage: 30 MILLIGRAM, BID (2 EVERY 1 DAY)
  289. POLYETHYLENE GLYCOL 3350\POTASSIUM CHLORIDE\SODIUM BICARBONATE\SODIUM [Suspect]
     Active Substance: POLYETHYLENE GLYCOL 3350\POTASSIUM CHLORIDE\SODIUM BICARBONATE\SODIUM CHLORIDE
     Indication: Product used for unknown indication
     Dosage: 30 MILLIGRAM, BID (2 EVERY 1 DAY)
  290. POLYETHYLENE GLYCOL 3350\POTASSIUM CHLORIDE\SODIUM BICARBONATE\SODIUM [Suspect]
     Active Substance: POLYETHYLENE GLYCOL 3350\POTASSIUM CHLORIDE\SODIUM BICARBONATE\SODIUM CHLORIDE
     Dosage: 30 MILLIGRAM, BID (2 EVERY 1 DAY)
     Route: 048
  291. POLYETHYLENE GLYCOL 3350\POTASSIUM CHLORIDE\SODIUM BICARBONATE\SODIUM [Suspect]
     Active Substance: POLYETHYLENE GLYCOL 3350\POTASSIUM CHLORIDE\SODIUM BICARBONATE\SODIUM CHLORIDE
     Dosage: 30 MILLIGRAM, BID (2 EVERY 1 DAY)
     Route: 048
  292. POLYETHYLENE GLYCOL 3350\POTASSIUM CHLORIDE\SODIUM BICARBONATE\SODIUM [Suspect]
     Active Substance: POLYETHYLENE GLYCOL 3350\POTASSIUM CHLORIDE\SODIUM BICARBONATE\SODIUM CHLORIDE
     Dosage: 30 MILLIGRAM, BID (2 EVERY 1 DAY)
  293. MELATONIN [Suspect]
     Active Substance: MELATONIN
     Indication: Sleep disorder
     Dosage: 10 MILLIGRAM, QD (1 EVERY 1 DAYS)
  294. MELATONIN [Suspect]
     Active Substance: MELATONIN
     Indication: Sleep deficit
     Dosage: 10 MILLIGRAM, QD (1 EVERY 1 DAYS)
  295. MELATONIN [Suspect]
     Active Substance: MELATONIN
     Indication: Child abuse
     Dosage: 10 MILLIGRAM, QD (1 EVERY 1 DAYS)
     Route: 048
  296. MELATONIN [Suspect]
     Active Substance: MELATONIN
     Dosage: 10 MILLIGRAM, QD (1 EVERY 1 DAYS)
     Route: 048
  297. MELATONIN [Suspect]
     Active Substance: MELATONIN
  298. MELATONIN [Suspect]
     Active Substance: MELATONIN
  299. MELATONIN [Suspect]
     Active Substance: MELATONIN
     Route: 048
  300. MELATONIN [Suspect]
     Active Substance: MELATONIN
     Route: 048
  301. METHADONE [Suspect]
     Active Substance: METHADONE HYDROCHLORIDE
     Indication: Sleep disorder
     Dosage: 0.375 MILLIGRAM, QD (1 EVERY 1 DAY)
  302. METHADONE [Suspect]
     Active Substance: METHADONE HYDROCHLORIDE
     Indication: Child abuse
     Dosage: 0.375 MILLIGRAM, QD (1 EVERY 1 DAY)
  303. METHADONE [Suspect]
     Active Substance: METHADONE HYDROCHLORIDE
     Indication: Back pain
     Dosage: 0.375 MILLIGRAM, QD (1 EVERY 1 DAY)
     Route: 048
  304. METHADONE [Suspect]
     Active Substance: METHADONE HYDROCHLORIDE
     Dosage: 0.375 MILLIGRAM, QD (1 EVERY 1 DAY)
     Route: 048
  305. METHADONE [Suspect]
     Active Substance: METHADONE HYDROCHLORIDE
     Dosage: 2 MILLIGRAM, TID (3 EVERY 1 DAY)
     Route: 048
  306. METHADONE [Suspect]
     Active Substance: METHADONE HYDROCHLORIDE
     Dosage: 2 MILLIGRAM, TID (3 EVERY 1 DAY)
     Route: 048
  307. METHADONE [Suspect]
     Active Substance: METHADONE HYDROCHLORIDE
     Dosage: 2 MILLIGRAM, TID (3 EVERY 1 DAY)
  308. METHADONE [Suspect]
     Active Substance: METHADONE HYDROCHLORIDE
     Dosage: 2 MILLIGRAM, TID (3 EVERY 1 DAY)
  309. METHADONE [Suspect]
     Active Substance: METHADONE HYDROCHLORIDE
     Dosage: 10 MILLIGRAM, QD (1 EVERY 1 DAYS)
     Route: 048
  310. METHADONE [Suspect]
     Active Substance: METHADONE HYDROCHLORIDE
     Dosage: 10 MILLIGRAM, QD (1 EVERY 1 DAYS)
     Route: 048
  311. METHADONE [Suspect]
     Active Substance: METHADONE HYDROCHLORIDE
     Dosage: 10 MILLIGRAM, QD (1 EVERY 1 DAYS)
  312. METHADONE [Suspect]
     Active Substance: METHADONE HYDROCHLORIDE
     Dosage: 10 MILLIGRAM, QD (1 EVERY 1 DAYS)
  313. METHADONE [Suspect]
     Active Substance: METHADONE HYDROCHLORIDE
     Dosage: 2 MILLIGRAM, Q8H (1 EVERY 8 HOU)
  314. METHADONE [Suspect]
     Active Substance: METHADONE HYDROCHLORIDE
     Dosage: 2 MILLIGRAM, Q8H (1 EVERY 8 HOU)
  315. METHADONE [Suspect]
     Active Substance: METHADONE HYDROCHLORIDE
     Dosage: 2 MILLIGRAM, Q8H (1 EVERY 8 HOU)
     Route: 048
  316. METHADONE [Suspect]
     Active Substance: METHADONE HYDROCHLORIDE
     Dosage: 2 MILLIGRAM, Q8H (1 EVERY 8 HOU)
     Route: 048
  317. METHOCARBAMOL [Suspect]
     Active Substance: METHOCARBAMOL
     Indication: Child abuse
     Dosage: UNK, BID (2 EVERY 1 DAYS)
     Route: 065
  318. METHOCARBAMOL [Suspect]
     Active Substance: METHOCARBAMOL
     Indication: Back pain
     Dosage: UNK, BID (2 EVERY 1 DAYS)
     Route: 065
  319. METHOCARBAMOL [Suspect]
     Active Substance: METHOCARBAMOL
     Dosage: UNK, BID (2 EVERY 1 DAYS)
  320. METHOCARBAMOL [Suspect]
     Active Substance: METHOCARBAMOL
     Dosage: UNK, BID (2 EVERY 1 DAYS)
  321. METHOCARBAMOL [Suspect]
     Active Substance: METHOCARBAMOL
     Dosage: 400 MILLIGRAM, BID (2 EVERY 1 DAY)
     Route: 048
  322. METHOCARBAMOL [Suspect]
     Active Substance: METHOCARBAMOL
     Dosage: 400 MILLIGRAM, BID (2 EVERY 1 DAY)
     Route: 048
  323. METHOCARBAMOL [Suspect]
     Active Substance: METHOCARBAMOL
     Dosage: 400 MILLIGRAM, BID (2 EVERY 1 DAY)
  324. METHOCARBAMOL [Suspect]
     Active Substance: METHOCARBAMOL
     Dosage: 400 MILLIGRAM, BID (2 EVERY 1 DAY)
  325. METHOCARBAMOL [Suspect]
     Active Substance: METHOCARBAMOL
     Route: 048
  326. METHOCARBAMOL [Suspect]
     Active Substance: METHOCARBAMOL
     Route: 048
  327. METHOCARBAMOL [Suspect]
     Active Substance: METHOCARBAMOL
  328. METHOCARBAMOL [Suspect]
     Active Substance: METHOCARBAMOL
  329. METHOCARBAMOL [Suspect]
     Active Substance: METHOCARBAMOL
  330. METHOCARBAMOL [Suspect]
     Active Substance: METHOCARBAMOL
  331. METHOCARBAMOL [Suspect]
     Active Substance: METHOCARBAMOL
     Route: 065
  332. METHOCARBAMOL [Suspect]
     Active Substance: METHOCARBAMOL
     Route: 065
  333. METHOCARBAMOL [Suspect]
     Active Substance: METHOCARBAMOL
     Dosage: 1 DOSAGE FORM, BID (1 EVERY 12 HOURS)
     Route: 048
  334. METHOCARBAMOL [Suspect]
     Active Substance: METHOCARBAMOL
     Dosage: 1 DOSAGE FORM, BID (1 EVERY 12 HOURS)
     Route: 048
  335. METHOCARBAMOL [Suspect]
     Active Substance: METHOCARBAMOL
     Dosage: 1 DOSAGE FORM, BID (1 EVERY 12 HOURS)
  336. METHOCARBAMOL [Suspect]
     Active Substance: METHOCARBAMOL
     Dosage: 1 DOSAGE FORM, BID (1 EVERY 12 HOURS)
  337. MONTELUKAST [Suspect]
     Active Substance: MONTELUKAST
     Indication: Product used for unknown indication
     Dosage: 10 MILLIGRAM, QD (1 EVERY 1 DAYS)
  338. MONTELUKAST [Suspect]
     Active Substance: MONTELUKAST
     Dosage: 10 MILLIGRAM, QD (1 EVERY 1 DAYS)
     Route: 048
  339. MONTELUKAST [Suspect]
     Active Substance: MONTELUKAST
     Dosage: 10 MILLIGRAM, QD (1 EVERY 1 DAYS)
     Route: 048
  340. MONTELUKAST [Suspect]
     Active Substance: MONTELUKAST
     Dosage: 10 MILLIGRAM, QD (1 EVERY 1 DAYS)
  341. OMEGA 3 [Suspect]
     Active Substance: CAPSAICIN
     Indication: Product used for unknown indication
     Dosage: 400 MILLIGRAM, QD (1 EVERY 1 DAYS)
  342. OMEGA 3 [Suspect]
     Active Substance: CAPSAICIN
     Dosage: 400 MILLIGRAM, QD (1 EVERY 1 DAYS)
     Route: 048
  343. OMEGA 3 [Suspect]
     Active Substance: CAPSAICIN
     Dosage: 400 MILLIGRAM, QD (1 EVERY 1 DAYS)
     Route: 048
  344. OMEGA 3 [Suspect]
     Active Substance: CAPSAICIN
     Dosage: 400 MILLIGRAM, QD (1 EVERY 1 DAYS)
  345. OMEGA 3 [Suspect]
     Active Substance: CAPSAICIN
     Indication: Product used for unknown indication
     Dosage: 200 MILLIGRAM, QD (1 EVERY 1 DAYS)
  346. OMEGA 3 [Suspect]
     Active Substance: CAPSAICIN
     Dosage: 200 MILLIGRAM, QD (1 EVERY 1 DAYS)
     Route: 048
  347. OMEGA 3 [Suspect]
     Active Substance: CAPSAICIN
     Dosage: 200 MILLIGRAM, QD (1 EVERY 1 DAYS)
     Route: 048
  348. OMEGA 3 [Suspect]
     Active Substance: CAPSAICIN
     Dosage: 200 MILLIGRAM, QD (1 EVERY 1 DAYS)
  349. OMEGA 3 [Suspect]
     Active Substance: CAPSAICIN
     Dosage: 400 MILLIGRAM, QD (1 EVERY 1 DAYS)
  350. OMEGA 3 [Suspect]
     Active Substance: CAPSAICIN
     Dosage: 400 MILLIGRAM, QD (1 EVERY 1 DAYS)
     Route: 048
  351. OMEGA 3 [Suspect]
     Active Substance: CAPSAICIN
     Dosage: 400 MILLIGRAM, QD (1 EVERY 1 DAYS)
  352. OMEGA 3 [Suspect]
     Active Substance: CAPSAICIN
     Dosage: 400 MILLIGRAM, QD (1 EVERY 1 DAYS)
     Route: 048
  353. OMEGA 3 [Suspect]
     Active Substance: CAPSAICIN
     Dosage: UNK, QD (1 EVERY 1 DAYS)
  354. OMEGA 3 [Suspect]
     Active Substance: CAPSAICIN
     Dosage: UNK, QD (1 EVERY 1 DAYS)
  355. OMEGA 3 [Suspect]
     Active Substance: CAPSAICIN
     Dosage: UNK, QD (1 EVERY 1 DAYS)
     Route: 048
  356. OMEGA 3 [Suspect]
     Active Substance: CAPSAICIN
     Dosage: UNK, QD (1 EVERY 1 DAYS)
     Route: 048
  357. OMEGA 3 [Suspect]
     Active Substance: CAPSAICIN
     Route: 048
  358. OMEGA 3 [Suspect]
     Active Substance: CAPSAICIN
     Route: 048
  359. OMEGA 3 [Suspect]
     Active Substance: CAPSAICIN
  360. OMEGA 3 [Suspect]
     Active Substance: CAPSAICIN
  361. OMEGA 3 [Suspect]
     Active Substance: CAPSAICIN
     Dosage: 1 DOSAGE FORM, QD (1 EVERY 1 DAYS)
  362. OMEGA 3 [Suspect]
     Active Substance: CAPSAICIN
     Dosage: 1 DOSAGE FORM, QD (1 EVERY 1 DAYS)
  363. OMEGA 3 [Suspect]
     Active Substance: CAPSAICIN
     Dosage: 1 DOSAGE FORM, QD (1 EVERY 1 DAYS)
     Route: 048
  364. OMEGA 3 [Suspect]
     Active Substance: CAPSAICIN
     Dosage: 1 DOSAGE FORM, QD (1 EVERY 1 DAYS)
     Route: 048
  365. FISH OIL\OMEGA-3 FATTY ACIDS [Suspect]
     Active Substance: FISH OIL\OMEGA-3 FATTY ACIDS
     Indication: Product used for unknown indication
  366. FISH OIL\OMEGA-3 FATTY ACIDS [Suspect]
     Active Substance: FISH OIL\OMEGA-3 FATTY ACIDS
  367. FISH OIL\OMEGA-3 FATTY ACIDS [Suspect]
     Active Substance: FISH OIL\OMEGA-3 FATTY ACIDS
     Route: 065
  368. FISH OIL\OMEGA-3 FATTY ACIDS [Suspect]
     Active Substance: FISH OIL\OMEGA-3 FATTY ACIDS
     Route: 065
  369. FISH OIL\OMEGA-3 FATTY ACIDS [Suspect]
     Active Substance: FISH OIL\OMEGA-3 FATTY ACIDS
     Dosage: 200 MILLIGRAM, QD (1 EVERY 1 DAYS)
  370. FISH OIL\OMEGA-3 FATTY ACIDS [Suspect]
     Active Substance: FISH OIL\OMEGA-3 FATTY ACIDS
     Dosage: 200 MILLIGRAM, QD (1 EVERY 1 DAYS)
  371. FISH OIL\OMEGA-3 FATTY ACIDS [Suspect]
     Active Substance: FISH OIL\OMEGA-3 FATTY ACIDS
     Dosage: 200 MILLIGRAM, QD (1 EVERY 1 DAYS)
     Route: 048
  372. FISH OIL\OMEGA-3 FATTY ACIDS [Suspect]
     Active Substance: FISH OIL\OMEGA-3 FATTY ACIDS
     Dosage: 200 MILLIGRAM, QD (1 EVERY 1 DAYS)
     Route: 048
  373. FISH OIL\OMEGA-3 FATTY ACIDS [Suspect]
     Active Substance: FISH OIL\OMEGA-3 FATTY ACIDS
     Dosage: 400 MILLIGRAM, QD (1 EVERY 1 DAYS)
  374. FISH OIL\OMEGA-3 FATTY ACIDS [Suspect]
     Active Substance: FISH OIL\OMEGA-3 FATTY ACIDS
     Dosage: 400 MILLIGRAM, QD (1 EVERY 1 DAYS)
  375. FISH OIL\OMEGA-3 FATTY ACIDS [Suspect]
     Active Substance: FISH OIL\OMEGA-3 FATTY ACIDS
     Dosage: 400 MILLIGRAM, QD (1 EVERY 1 DAYS)
     Route: 048
  376. FISH OIL\OMEGA-3 FATTY ACIDS [Suspect]
     Active Substance: FISH OIL\OMEGA-3 FATTY ACIDS
     Dosage: 400 MILLIGRAM, QD (1 EVERY 1 DAYS)
     Route: 048
  377. FISH OIL\OMEGA-3 FATTY ACIDS [Suspect]
     Active Substance: FISH OIL\OMEGA-3 FATTY ACIDS
     Dosage: 200 MILLIGRAM, QD (1 EVERY 1 DAYS)
  378. FISH OIL\OMEGA-3 FATTY ACIDS [Suspect]
     Active Substance: FISH OIL\OMEGA-3 FATTY ACIDS
     Dosage: 200 MILLIGRAM, QD (1 EVERY 1 DAYS)
  379. FISH OIL\OMEGA-3 FATTY ACIDS [Suspect]
     Active Substance: FISH OIL\OMEGA-3 FATTY ACIDS
     Dosage: 200 MILLIGRAM, QD (1 EVERY 1 DAYS)
     Route: 065
  380. FISH OIL\OMEGA-3 FATTY ACIDS [Suspect]
     Active Substance: FISH OIL\OMEGA-3 FATTY ACIDS
     Dosage: 200 MILLIGRAM, QD (1 EVERY 1 DAYS)
     Route: 065
  381. FISH OIL\OMEGA-3 FATTY ACIDS [Suspect]
     Active Substance: FISH OIL\OMEGA-3 FATTY ACIDS
     Dosage: 400 MILLIGRAM, QD (1 EVERY 1 DAYS)
  382. FISH OIL\OMEGA-3 FATTY ACIDS [Suspect]
     Active Substance: FISH OIL\OMEGA-3 FATTY ACIDS
     Dosage: 400 MILLIGRAM, QD (1 EVERY 1 DAYS)
     Route: 065
  383. FISH OIL\OMEGA-3 FATTY ACIDS [Suspect]
     Active Substance: FISH OIL\OMEGA-3 FATTY ACIDS
     Dosage: 400 MILLIGRAM, QD (1 EVERY 1 DAYS)
  384. FISH OIL\OMEGA-3 FATTY ACIDS [Suspect]
     Active Substance: FISH OIL\OMEGA-3 FATTY ACIDS
     Dosage: 400 MILLIGRAM, QD (1 EVERY 1 DAYS)
     Route: 065
  385. ROBAXACET [Suspect]
     Active Substance: ACETAMINOPHEN\METHOCARBAMOL
     Indication: Back pain
     Dosage: 900 MILLIGRAM, QD (1 EVERY 1 DAY)
  386. ROBAXACET [Suspect]
     Active Substance: ACETAMINOPHEN\METHOCARBAMOL
     Dosage: 900 MILLIGRAM, QD (1 EVERY 1 DAY)
  387. ROBAXACET [Suspect]
     Active Substance: ACETAMINOPHEN\METHOCARBAMOL
     Dosage: 900 MILLIGRAM, QD (1 EVERY 1 DAY)
     Route: 048
  388. ROBAXACET [Suspect]
     Active Substance: ACETAMINOPHEN\METHOCARBAMOL
     Dosage: 900 MILLIGRAM, QD (1 EVERY 1 DAY)
     Route: 048
  389. ROBAXACET [Suspect]
     Active Substance: ACETAMINOPHEN\METHOCARBAMOL
     Dosage: 400 MILLIGRAM, QD (1 EVERY 1 DAY)
  390. ROBAXACET [Suspect]
     Active Substance: ACETAMINOPHEN\METHOCARBAMOL
     Dosage: 400 MILLIGRAM, QD (1 EVERY 1 DAY)
  391. ROBAXACET [Suspect]
     Active Substance: ACETAMINOPHEN\METHOCARBAMOL
     Dosage: 400 MILLIGRAM, QD (1 EVERY 1 DAY)
     Route: 048
  392. ROBAXACET [Suspect]
     Active Substance: ACETAMINOPHEN\METHOCARBAMOL
     Dosage: 400 MILLIGRAM, QD (1 EVERY 1 DAY)
     Route: 048
  393. ROBAXISAL [Suspect]
     Active Substance: ASPIRIN\METHOCARBAMOL
     Indication: Product used for unknown indication
     Dosage: 500 MILLIGRAM, BID (2 EVERY 1 DAY)
     Route: 048
  394. ROBAXISAL [Suspect]
     Active Substance: ASPIRIN\METHOCARBAMOL
     Dosage: 500 MILLIGRAM, BID (2 EVERY 1 DAY)
  395. ROBAXISAL [Suspect]
     Active Substance: ASPIRIN\METHOCARBAMOL
     Dosage: 500 MILLIGRAM, BID (2 EVERY 1 DAY)
  396. ROBAXISAL [Suspect]
     Active Substance: ASPIRIN\METHOCARBAMOL
     Dosage: 500 MILLIGRAM, BID (2 EVERY 1 DAY)
     Route: 048
  397. ROBAXISAL [Suspect]
     Active Substance: ASPIRIN\METHOCARBAMOL
     Dosage: 400 MILLIGRAM, BID (2 EVERY 1 DAY)
     Route: 048
  398. ROBAXISAL [Suspect]
     Active Substance: ASPIRIN\METHOCARBAMOL
     Dosage: 400 MILLIGRAM, BID (2 EVERY 1 DAY)
  399. ROBAXISAL [Suspect]
     Active Substance: ASPIRIN\METHOCARBAMOL
     Dosage: 400 MILLIGRAM, BID (2 EVERY 1 DAY)
  400. ROBAXISAL [Suspect]
     Active Substance: ASPIRIN\METHOCARBAMOL
     Dosage: 400 MILLIGRAM, BID (2 EVERY 1 DAY)
     Route: 048
  401. PANTOPRAZOLE [Suspect]
     Active Substance: PANTOPRAZOLE
     Indication: Product used for unknown indication
     Dosage: 40 MILLIGRAM, QD (1 EVERY 1 DAYS)
  402. PANTOPRAZOLE [Suspect]
     Active Substance: PANTOPRAZOLE
     Dosage: 40 MILLIGRAM, QD (1 EVERY 1 DAYS)
     Route: 048
  403. PANTOPRAZOLE [Suspect]
     Active Substance: PANTOPRAZOLE
     Dosage: 40 MILLIGRAM, QD (1 EVERY 1 DAYS)
     Route: 048
  404. PANTOPRAZOLE [Suspect]
     Active Substance: PANTOPRAZOLE
     Dosage: 40 MILLIGRAM, QD (1 EVERY 1 DAYS)
  405. PHENOBARBITAL [Suspect]
     Active Substance: PHENOBARBITAL
     Indication: Product used for unknown indication
     Dosage: 30 MILLIGRAM, BID (2 EVERY 1 DAY)
     Route: 048
  406. PHENOBARBITAL [Suspect]
     Active Substance: PHENOBARBITAL
     Dosage: 30 MILLIGRAM, BID (2 EVERY 1 DAY)
  407. PHENOBARBITAL [Suspect]
     Active Substance: PHENOBARBITAL
     Dosage: 30 MILLIGRAM, BID (2 EVERY 1 DAY)
  408. PHENOBARBITAL [Suspect]
     Active Substance: PHENOBARBITAL
     Dosage: 30 MILLIGRAM, BID (2 EVERY 1 DAY)
     Route: 048
  409. PHENOBARBITAL [Suspect]
     Active Substance: PHENOBARBITAL
     Dosage: 30 MILLIGRAM, BID (1 EVERY 12 HOURS)
     Route: 048
  410. PHENOBARBITAL [Suspect]
     Active Substance: PHENOBARBITAL
     Dosage: 30 MILLIGRAM, BID (1 EVERY 12 HOURS)
  411. PHENOBARBITAL [Suspect]
     Active Substance: PHENOBARBITAL
     Dosage: 30 MILLIGRAM, BID (1 EVERY 12 HOURS)
  412. PHENOBARBITAL [Suspect]
     Active Substance: PHENOBARBITAL
     Dosage: 30 MILLIGRAM, BID (1 EVERY 12 HOURS)
     Route: 048
  413. HIGH DENSITY POLYETHYLENE [Suspect]
     Active Substance: HIGH DENSITY POLYETHYLENE
     Indication: Product used for unknown indication
     Dosage: 30 MILLIGRAM, BID (2 EVERY 1 DAY)
  414. HIGH DENSITY POLYETHYLENE [Suspect]
     Active Substance: HIGH DENSITY POLYETHYLENE
     Dosage: 30 MILLIGRAM, BID (2 EVERY 1 DAY)
     Route: 048
  415. HIGH DENSITY POLYETHYLENE [Suspect]
     Active Substance: HIGH DENSITY POLYETHYLENE
     Dosage: 30 MILLIGRAM, BID (2 EVERY 1 DAY)
     Route: 048
  416. HIGH DENSITY POLYETHYLENE [Suspect]
     Active Substance: HIGH DENSITY POLYETHYLENE
     Dosage: 30 MILLIGRAM, BID (2 EVERY 1 DAY)
  417. RANITIDINE [Suspect]
     Active Substance: RANITIDINE
     Indication: Product used for unknown indication
     Dosage: 150 MILLIGRAM, QD (1 EVERY 1 DAYS)
  418. RANITIDINE [Suspect]
     Active Substance: RANITIDINE
     Dosage: 150 MILLIGRAM, QD (1 EVERY 1 DAYS)
     Route: 048
  419. RANITIDINE [Suspect]
     Active Substance: RANITIDINE
     Dosage: 150 MILLIGRAM, QD (1 EVERY 1 DAYS)
     Route: 048
  420. RANITIDINE [Suspect]
     Active Substance: RANITIDINE
     Dosage: 150 MILLIGRAM, QD (1 EVERY 1 DAYS)
  421. ACETAMINOPHEN\METHOCARBAMOL [Suspect]
     Active Substance: ACETAMINOPHEN\METHOCARBAMOL
     Indication: Back pain
     Dosage: 900 MILLIGRAM, QD (1 EVERY 1 DAY)
  422. ACETAMINOPHEN\METHOCARBAMOL [Suspect]
     Active Substance: ACETAMINOPHEN\METHOCARBAMOL
     Dosage: 900 MILLIGRAM, QD (1 EVERY 1 DAY)
  423. ACETAMINOPHEN\METHOCARBAMOL [Suspect]
     Active Substance: ACETAMINOPHEN\METHOCARBAMOL
     Dosage: 900 MILLIGRAM, QD (1 EVERY 1 DAY)
     Route: 048
  424. ACETAMINOPHEN\METHOCARBAMOL [Suspect]
     Active Substance: ACETAMINOPHEN\METHOCARBAMOL
     Dosage: 900 MILLIGRAM, QD (1 EVERY 1 DAY)
     Route: 048
  425. ACETAMINOPHEN\METHOCARBAMOL [Suspect]
     Active Substance: ACETAMINOPHEN\METHOCARBAMOL
     Dosage: 400 MILLIGRAM, BID (2 EVERY 1 DAY)
  426. ACETAMINOPHEN\METHOCARBAMOL [Suspect]
     Active Substance: ACETAMINOPHEN\METHOCARBAMOL
     Dosage: 400 MILLIGRAM, BID (2 EVERY 1 DAY)
  427. ACETAMINOPHEN\METHOCARBAMOL [Suspect]
     Active Substance: ACETAMINOPHEN\METHOCARBAMOL
     Dosage: 400 MILLIGRAM, BID (2 EVERY 1 DAY)
     Route: 048
  428. ACETAMINOPHEN\METHOCARBAMOL [Suspect]
     Active Substance: ACETAMINOPHEN\METHOCARBAMOL
     Dosage: 400 MILLIGRAM, BID (2 EVERY 1 DAY)
     Route: 048
  429. ASPIRIN\METHOCARBAMOL [Suspect]
     Active Substance: ASPIRIN\METHOCARBAMOL
     Indication: Product used for unknown indication
     Dosage: 400 MILLIGRAM, BID (2 EVERY 1 DAY)
  430. ASPIRIN\METHOCARBAMOL [Suspect]
     Active Substance: ASPIRIN\METHOCARBAMOL
     Dosage: 400 MILLIGRAM, BID (2 EVERY 1 DAY)
     Route: 048
  431. ASPIRIN\METHOCARBAMOL [Suspect]
     Active Substance: ASPIRIN\METHOCARBAMOL
     Dosage: 400 MILLIGRAM, BID (2 EVERY 1 DAY)
     Route: 048
  432. ASPIRIN\METHOCARBAMOL [Suspect]
     Active Substance: ASPIRIN\METHOCARBAMOL
     Dosage: 400 MILLIGRAM, BID (2 EVERY 1 DAY)
  433. ALBUTEROL [Suspect]
     Active Substance: ALBUTEROL
     Indication: Product used for unknown indication
     Dosage: 100 MICROGRAM, Q4H (1 EVERY 4 HOURS)
  434. ALBUTEROL [Suspect]
     Active Substance: ALBUTEROL
     Dosage: 100 MICROGRAM, Q4H (1 EVERY 4 HOURS)
     Route: 065
  435. ALBUTEROL [Suspect]
     Active Substance: ALBUTEROL
     Dosage: 100 MICROGRAM, Q4H (1 EVERY 4 HOURS)
     Route: 065
  436. ALBUTEROL [Suspect]
     Active Substance: ALBUTEROL
     Dosage: 100 MICROGRAM, Q4H (1 EVERY 4 HOURS)
  437. ALBUTEROL [Suspect]
     Active Substance: ALBUTEROL
  438. ALBUTEROL [Suspect]
     Active Substance: ALBUTEROL
     Route: 065
  439. ALBUTEROL [Suspect]
     Active Substance: ALBUTEROL
  440. ALBUTEROL [Suspect]
     Active Substance: ALBUTEROL
     Route: 065
  441. ALBUTEROL [Suspect]
     Active Substance: ALBUTEROL
  442. ALBUTEROL [Suspect]
     Active Substance: ALBUTEROL
  443. ALBUTEROL [Suspect]
     Active Substance: ALBUTEROL
     Route: 065
  444. ALBUTEROL [Suspect]
     Active Substance: ALBUTEROL
     Route: 065
  445. ALBUTEROL [Suspect]
     Active Substance: ALBUTEROL
     Dosage: 2 DOSAGE FORM, Q4H (1 EVERY 4 HOURS)
     Route: 065
  446. ALBUTEROL [Suspect]
     Active Substance: ALBUTEROL
     Dosage: 2 DOSAGE FORM, Q4H (1 EVERY 4 HOURS)
     Route: 065
  447. ALBUTEROL [Suspect]
     Active Substance: ALBUTEROL
     Dosage: 2 DOSAGE FORM, Q4H (1 EVERY 4 HOURS)
  448. ALBUTEROL [Suspect]
     Active Substance: ALBUTEROL
     Dosage: 2 DOSAGE FORM, Q4H (1 EVERY 4 HOURS)
  449. ALBUTEROL [Suspect]
     Active Substance: ALBUTEROL
     Dosage: 100 MILLIGRAM, Q4H (1 EVERY 4 HOURS)
     Route: 065
  450. ALBUTEROL [Suspect]
     Active Substance: ALBUTEROL
     Dosage: 100 MILLIGRAM, Q4H (1 EVERY 4 HOURS)
     Route: 065
  451. ALBUTEROL [Suspect]
     Active Substance: ALBUTEROL
     Dosage: 100 MILLIGRAM, Q4H (1 EVERY 4 HOURS)
  452. ALBUTEROL [Suspect]
     Active Substance: ALBUTEROL
     Dosage: 100 MILLIGRAM, Q4H (1 EVERY 4 HOURS)
  453. ALBUTEROL [Suspect]
     Active Substance: ALBUTEROL
     Dosage: 600 MILLIGRAM, QD (1 EVERY 1 DAY)
     Route: 065
  454. ALBUTEROL [Suspect]
     Active Substance: ALBUTEROL
     Dosage: 600 MILLIGRAM, QD (1 EVERY 1 DAY)
     Route: 065
  455. ALBUTEROL [Suspect]
     Active Substance: ALBUTEROL
     Dosage: 600 MILLIGRAM, QD (1 EVERY 1 DAY)
  456. ALBUTEROL [Suspect]
     Active Substance: ALBUTEROL
     Dosage: 600 MILLIGRAM, QD (1 EVERY 1 DAY)
  457. ALBUTEROL [Suspect]
     Active Substance: ALBUTEROL
     Route: 065
  458. ALBUTEROL [Suspect]
     Active Substance: ALBUTEROL
     Route: 065
  459. ALBUTEROL [Suspect]
     Active Substance: ALBUTEROL
  460. ALBUTEROL [Suspect]
     Active Substance: ALBUTEROL
  461. ALBUTEROL [Suspect]
     Active Substance: ALBUTEROL
     Dosage: 150 MILLIGRAM, Q4H (1 EVERY 4 HOURS)
     Route: 065
  462. ALBUTEROL [Suspect]
     Active Substance: ALBUTEROL
     Dosage: 150 MILLIGRAM, Q4H (1 EVERY 4 HOURS)
     Route: 065
  463. ALBUTEROL [Suspect]
     Active Substance: ALBUTEROL
     Dosage: 150 MILLIGRAM, Q4H (1 EVERY 4 HOURS)
  464. ALBUTEROL [Suspect]
     Active Substance: ALBUTEROL
     Dosage: 150 MILLIGRAM, Q4H (1 EVERY 4 HOURS)
  465. ALBUTEROL [Suspect]
     Active Substance: ALBUTEROL
     Dosage: 1 DOSAGE FORM, Q4H (1 EVERY 4 HOURS)
     Route: 065
  466. ALBUTEROL [Suspect]
     Active Substance: ALBUTEROL
     Dosage: 1 DOSAGE FORM, Q4H (1 EVERY 4 HOURS)
     Route: 065
  467. ALBUTEROL [Suspect]
     Active Substance: ALBUTEROL
     Dosage: 1 DOSAGE FORM, Q4H (1 EVERY 4 HOURS)
  468. ALBUTEROL [Suspect]
     Active Substance: ALBUTEROL
     Dosage: 1 DOSAGE FORM, Q4H (1 EVERY 4 HOURS)
  469. ALBUTEROL [Suspect]
     Active Substance: ALBUTEROL
     Route: 065
  470. ALBUTEROL [Suspect]
     Active Substance: ALBUTEROL
     Route: 065
  471. ALBUTEROL [Suspect]
     Active Substance: ALBUTEROL
  472. ALBUTEROL [Suspect]
     Active Substance: ALBUTEROL
  473. ALBUTEROL [Suspect]
     Active Substance: ALBUTEROL
     Dosage: 100 MICROGRAM, Q4H (1 EVERY 4 HOURS)
  474. ALBUTEROL [Suspect]
     Active Substance: ALBUTEROL
     Dosage: 100 MICROGRAM, Q4H (1 EVERY 4 HOURS)
  475. ALBUTEROL [Suspect]
     Active Substance: ALBUTEROL
     Dosage: 100 MICROGRAM, Q4H (1 EVERY 4 HOURS)
     Route: 055
  476. ALBUTEROL [Suspect]
     Active Substance: ALBUTEROL
     Dosage: 100 MICROGRAM, Q4H (1 EVERY 4 HOURS)
     Route: 055
  477. LEUPROLIDE ACETATE [Suspect]
     Active Substance: LEUPROLIDE ACETATE
     Indication: Product used for unknown indication
     Dosage: 7.5 MILLIGRAM, MONTHLY (1 EVERY 1 MONTH)
  478. LEUPROLIDE ACETATE [Suspect]
     Active Substance: LEUPROLIDE ACETATE
     Dosage: 7.5 MILLIGRAM, MONTHLY (1 EVERY 1 MONTH)
  479. LEUPROLIDE ACETATE [Suspect]
     Active Substance: LEUPROLIDE ACETATE
     Dosage: 7.5 MILLIGRAM, MONTHLY (1 EVERY 1 MONTH)
     Route: 030
  480. LEUPROLIDE ACETATE [Suspect]
     Active Substance: LEUPROLIDE ACETATE
     Dosage: 7.5 MILLIGRAM, MONTHLY (1 EVERY 1 MONTH)
     Route: 030
  481. LEUPROLIDE ACETATE [Suspect]
     Active Substance: LEUPROLIDE ACETATE
     Dosage: 7.5 MILLIGRAM, QD (1 EVERY 1 DAY)
  482. LEUPROLIDE ACETATE [Suspect]
     Active Substance: LEUPROLIDE ACETATE
     Dosage: 7.5 MILLIGRAM, QD (1 EVERY 1 DAY)
  483. LEUPROLIDE ACETATE [Suspect]
     Active Substance: LEUPROLIDE ACETATE
     Dosage: 7.5 MILLIGRAM, QD (1 EVERY 1 DAY)
     Route: 030
  484. LEUPROLIDE ACETATE [Suspect]
     Active Substance: LEUPROLIDE ACETATE
     Dosage: 7.5 MILLIGRAM, QD (1 EVERY 1 DAY)
     Route: 030
  485. RANITIDINE HYDROCHLORIDE [Suspect]
     Active Substance: RANITIDINE HYDROCHLORIDE
     Indication: Product used for unknown indication
     Dosage: 150 MILLIGRAM, QD (1 EVERY 1 DAYS)
  486. RANITIDINE HYDROCHLORIDE [Suspect]
     Active Substance: RANITIDINE HYDROCHLORIDE
     Dosage: 150 MILLIGRAM, QD (1 EVERY 1 DAYS)
     Route: 048
  487. RANITIDINE HYDROCHLORIDE [Suspect]
     Active Substance: RANITIDINE HYDROCHLORIDE
     Dosage: 150 MILLIGRAM, QD (1 EVERY 1 DAYS)
     Route: 048
  488. RANITIDINE HYDROCHLORIDE [Suspect]
     Active Substance: RANITIDINE HYDROCHLORIDE
     Dosage: 150 MILLIGRAM, QD (1 EVERY 1 DAYS)
  489. ACETAMINOPHEN [Suspect]
     Active Substance: ACETAMINOPHEN
     Indication: Product used for unknown indication
     Dosage: 400 MILLIGRAM, BID (2 EVERY 1 DAY)
  490. ACETAMINOPHEN [Suspect]
     Active Substance: ACETAMINOPHEN
     Dosage: 400 MILLIGRAM, BID (2 EVERY 1 DAY)
     Route: 065
  491. ACETAMINOPHEN [Suspect]
     Active Substance: ACETAMINOPHEN
     Dosage: 400 MILLIGRAM, BID (2 EVERY 1 DAY)
     Route: 065
  492. ACETAMINOPHEN [Suspect]
     Active Substance: ACETAMINOPHEN
     Dosage: 400 MILLIGRAM, BID (2 EVERY 1 DAY)
  493. HYDROXYCHLOROQUINE SULFATE [Suspect]
     Active Substance: HYDROXYCHLOROQUINE SULFATE
     Indication: Product used for unknown indication
     Dosage: 400 MILLIGRAM, QD (1 EVERY 1 DAYS)
  494. HYDROXYCHLOROQUINE SULFATE [Suspect]
     Active Substance: HYDROXYCHLOROQUINE SULFATE
     Dosage: 400 MILLIGRAM, QD (1 EVERY 1 DAYS)
     Route: 048
  495. HYDROXYCHLOROQUINE SULFATE [Suspect]
     Active Substance: HYDROXYCHLOROQUINE SULFATE
     Dosage: 400 MILLIGRAM, QD (1 EVERY 1 DAYS)
     Route: 048
  496. HYDROXYCHLOROQUINE SULFATE [Suspect]
     Active Substance: HYDROXYCHLOROQUINE SULFATE
     Dosage: 400 MILLIGRAM, QD (1 EVERY 1 DAYS)
  497. VITAMIN D3 [Suspect]
     Active Substance: CHOLECALCIFEROL
     Indication: Vitamin supplementation
     Dosage: 2000 INTERNATIONAL UNIT, QD (1 EVERY 1 DAY)
     Route: 048
  498. VITAMIN D3 [Suspect]
     Active Substance: CHOLECALCIFEROL
     Dosage: 2000 INTERNATIONAL UNIT, QD (1 EVERY 1 DAY)
     Route: 048
  499. VITAMIN D3 [Suspect]
     Active Substance: CHOLECALCIFEROL
     Dosage: 2000 INTERNATIONAL UNIT, QD (1 EVERY 1 DAY)
  500. VITAMIN D3 [Suspect]
     Active Substance: CHOLECALCIFEROL
     Dosage: 2000 INTERNATIONAL UNIT, QD (1 EVERY 1 DAY)
  501. VITAMIN D3 [Suspect]
     Active Substance: CHOLECALCIFEROL
     Dosage: UNK, QD (1 EVERY 1 DAYS)
     Route: 048
  502. VITAMIN D3 [Suspect]
     Active Substance: CHOLECALCIFEROL
     Dosage: UNK, QD (1 EVERY 1 DAYS)
     Route: 048
  503. VITAMIN D3 [Suspect]
     Active Substance: CHOLECALCIFEROL
     Dosage: UNK, QD (1 EVERY 1 DAYS)
  504. VITAMIN D3 [Suspect]
     Active Substance: CHOLECALCIFEROL
     Dosage: UNK, QD (1 EVERY 1 DAYS)
  505. VITAMIN D3 [Suspect]
     Active Substance: CHOLECALCIFEROL
     Route: 065
  506. VITAMIN D3 [Suspect]
     Active Substance: CHOLECALCIFEROL
     Route: 065
  507. VITAMIN D3 [Suspect]
     Active Substance: CHOLECALCIFEROL
  508. VITAMIN D3 [Suspect]
     Active Substance: CHOLECALCIFEROL
  509. VITAMIN D3 [Suspect]
     Active Substance: CHOLECALCIFEROL
     Dosage: 200 INTERNATIONAL UNIT, QD (1 EVERY 1 DAY)
     Route: 048
  510. VITAMIN D3 [Suspect]
     Active Substance: CHOLECALCIFEROL
     Dosage: 200 INTERNATIONAL UNIT, QD (1 EVERY 1 DAY)
     Route: 048
  511. VITAMIN D3 [Suspect]
     Active Substance: CHOLECALCIFEROL
     Dosage: 200 INTERNATIONAL UNIT, QD (1 EVERY 1 DAY)
  512. VITAMIN D3 [Suspect]
     Active Substance: CHOLECALCIFEROL
     Dosage: 200 INTERNATIONAL UNIT, QD (1 EVERY 1 DAY)
  513. VITAMIN D3 [Suspect]
     Active Substance: CHOLECALCIFEROL
  514. VITAMIN D3 [Suspect]
     Active Substance: CHOLECALCIFEROL
  515. VITAMIN D3 [Suspect]
     Active Substance: CHOLECALCIFEROL
     Route: 048
  516. VITAMIN D3 [Suspect]
     Active Substance: CHOLECALCIFEROL
     Route: 048
  517. TYLENOL [Suspect]
     Active Substance: ACETAMINOPHEN
     Indication: Back pain
     Dosage: 400 MILLIGRAM, BID (2 EVERY 1 DAY)
  518. TYLENOL [Suspect]
     Active Substance: ACETAMINOPHEN
     Dosage: 400 MILLIGRAM, BID (2 EVERY 1 DAY)
     Route: 048
  519. TYLENOL [Suspect]
     Active Substance: ACETAMINOPHEN
     Dosage: 400 MILLIGRAM, BID (2 EVERY 1 DAY)
     Route: 048
  520. TYLENOL [Suspect]
     Active Substance: ACETAMINOPHEN
     Dosage: 400 MILLIGRAM, BID (2 EVERY 1 DAY)
  521. FLUTICASONE PROPIONATE [Suspect]
     Active Substance: FLUTICASONE PROPIONATE
     Indication: Product used for unknown indication
     Dosage: 250 MILLIGRAM, QD (1 EVERY 1 DAY)
  522. FLUTICASONE PROPIONATE [Suspect]
     Active Substance: FLUTICASONE PROPIONATE
     Dosage: 250 MILLIGRAM, QD (1 EVERY 1 DAY)
  523. FLUTICASONE PROPIONATE [Suspect]
     Active Substance: FLUTICASONE PROPIONATE
     Dosage: 250 MILLIGRAM, QD (1 EVERY 1 DAY)
     Route: 065
  524. FLUTICASONE PROPIONATE [Suspect]
     Active Substance: FLUTICASONE PROPIONATE
     Dosage: 250 MILLIGRAM, QD (1 EVERY 1 DAY)
     Route: 065
  525. FLUTICASONE PROPIONATE [Suspect]
     Active Substance: FLUTICASONE PROPIONATE
     Dosage: 2 DOSAGE FORM, QD (1 EVERY 1 DAY)
  526. FLUTICASONE PROPIONATE [Suspect]
     Active Substance: FLUTICASONE PROPIONATE
     Dosage: 2 DOSAGE FORM, QD (1 EVERY 1 DAY)
  527. FLUTICASONE PROPIONATE [Suspect]
     Active Substance: FLUTICASONE PROPIONATE
     Dosage: 2 DOSAGE FORM, QD (1 EVERY 1 DAY)
     Route: 065
  528. FLUTICASONE PROPIONATE [Suspect]
     Active Substance: FLUTICASONE PROPIONATE
     Dosage: 2 DOSAGE FORM, QD (1 EVERY 1 DAY)
     Route: 065
  529. HYDROMORPHONE [Suspect]
     Active Substance: HYDROMORPHONE
     Indication: Pain management
  530. HYDROMORPHONE [Suspect]
     Active Substance: HYDROMORPHONE
     Indication: Back pain
     Route: 065
  531. HYDROMORPHONE [Suspect]
     Active Substance: HYDROMORPHONE
     Route: 065
  532. HYDROMORPHONE [Suspect]
     Active Substance: HYDROMORPHONE
  533. ACETAMINOPHEN [Suspect]
     Active Substance: ACETAMINOPHEN
     Indication: Product used for unknown indication
     Dosage: UNK, BID (2 EVERY 1 DAYS)
  534. ACETAMINOPHEN [Suspect]
     Active Substance: ACETAMINOPHEN
     Dosage: UNK, BID (2 EVERY 1 DAYS)
     Route: 048
  535. ACETAMINOPHEN [Suspect]
     Active Substance: ACETAMINOPHEN
     Dosage: UNK, BID (2 EVERY 1 DAYS)
     Route: 048
  536. ACETAMINOPHEN [Suspect]
     Active Substance: ACETAMINOPHEN
     Dosage: UNK, BID (2 EVERY 1 DAYS)
  537. MONTELUKAST SODIUM [Suspect]
     Active Substance: MONTELUKAST SODIUM
     Indication: Product used for unknown indication
     Dosage: 10 MILLIGRAM, QD (1 EVERY 1 DAYS)
  538. MONTELUKAST SODIUM [Suspect]
     Active Substance: MONTELUKAST SODIUM
     Dosage: 10 MILLIGRAM, QD (1 EVERY 1 DAYS)
     Route: 048
  539. MONTELUKAST SODIUM [Suspect]
     Active Substance: MONTELUKAST SODIUM
     Dosage: 10 MILLIGRAM, QD (1 EVERY 1 DAYS)
     Route: 048
  540. MONTELUKAST SODIUM [Suspect]
     Active Substance: MONTELUKAST SODIUM
     Dosage: 10 MILLIGRAM, QD (1 EVERY 1 DAYS)
  541. ARIPIPRAZOLE [Suspect]
     Active Substance: ARIPIPRAZOLE
     Indication: Schizophrenia
     Dosage: 2 MILLIGRAM, TID (3 EVERY 1 DAY)
  542. ARIPIPRAZOLE [Suspect]
     Active Substance: ARIPIPRAZOLE
     Dosage: 2 MILLIGRAM, TID (3 EVERY 1 DAY)
  543. ARIPIPRAZOLE [Suspect]
     Active Substance: ARIPIPRAZOLE
     Dosage: 2 MILLIGRAM, TID (3 EVERY 1 DAY)
     Route: 048
  544. ARIPIPRAZOLE [Suspect]
     Active Substance: ARIPIPRAZOLE
     Dosage: 2 MILLIGRAM, TID (3 EVERY 1 DAY)
     Route: 048
  545. ARIPIPRAZOLE [Suspect]
     Active Substance: ARIPIPRAZOLE
     Dosage: 5 MILLIGRAM, QD (1 EVERY 1 DAY)
  546. ARIPIPRAZOLE [Suspect]
     Active Substance: ARIPIPRAZOLE
     Dosage: 5 MILLIGRAM, QD (1 EVERY 1 DAY)
  547. ARIPIPRAZOLE [Suspect]
     Active Substance: ARIPIPRAZOLE
     Dosage: 5 MILLIGRAM, QD (1 EVERY 1 DAY)
     Route: 065
  548. ARIPIPRAZOLE [Suspect]
     Active Substance: ARIPIPRAZOLE
     Dosage: 5 MILLIGRAM, QD (1 EVERY 1 DAY)
     Route: 065
  549. VITAMIN D3 [Suspect]
     Active Substance: CHOLECALCIFEROL
     Indication: Vitamin supplementation
     Dosage: UNK, QD (1 EVERY 1 DAYS)
  550. VITAMIN D3 [Suspect]
     Active Substance: CHOLECALCIFEROL
     Dosage: UNK, QD (1 EVERY 1 DAYS)
  551. VITAMIN D3 [Suspect]
     Active Substance: CHOLECALCIFEROL
     Dosage: UNK, QD (1 EVERY 1 DAYS)
     Route: 048
  552. VITAMIN D3 [Suspect]
     Active Substance: CHOLECALCIFEROL
     Dosage: UNK, QD (1 EVERY 1 DAYS)
     Route: 048
  553. VITAMIN D3 [Suspect]
     Active Substance: CHOLECALCIFEROL
     Dosage: 200 INTERNATIONAL UNIT, QD (1 EVERY 1 DAYS)
  554. VITAMIN D3 [Suspect]
     Active Substance: CHOLECALCIFEROL
     Dosage: 200 INTERNATIONAL UNIT, QD (1 EVERY 1 DAYS)
  555. VITAMIN D3 [Suspect]
     Active Substance: CHOLECALCIFEROL
     Dosage: 200 INTERNATIONAL UNIT, QD (1 EVERY 1 DAYS)
     Route: 048
  556. VITAMIN D3 [Suspect]
     Active Substance: CHOLECALCIFEROL
     Dosage: 200 INTERNATIONAL UNIT, QD (1 EVERY 1 DAYS)
     Route: 048
  557. ARIPIPRAZOLE [Suspect]
     Active Substance: ARIPIPRAZOLE
     Indication: Schizophrenia
     Dosage: 2 MILLIGRAM, Q8H (1 EVERY 8 HOUR)
  558. ARIPIPRAZOLE [Suspect]
     Active Substance: ARIPIPRAZOLE
     Dosage: 2 MILLIGRAM, Q8H (1 EVERY 8 HOUR)
  559. ARIPIPRAZOLE [Suspect]
     Active Substance: ARIPIPRAZOLE
     Dosage: 2 MILLIGRAM, Q8H (1 EVERY 8 HOUR)
     Route: 048
  560. ARIPIPRAZOLE [Suspect]
     Active Substance: ARIPIPRAZOLE
     Dosage: 2 MILLIGRAM, Q8H (1 EVERY 8 HOUR)
     Route: 048
  561. ARIPIPRAZOLE [Suspect]
     Active Substance: ARIPIPRAZOLE
     Dosage: 2 MILLIGRAM, QD (1 EVERY 1 DAYS)
  562. ARIPIPRAZOLE [Suspect]
     Active Substance: ARIPIPRAZOLE
     Dosage: 2 MILLIGRAM, QD (1 EVERY 1 DAYS)
  563. ARIPIPRAZOLE [Suspect]
     Active Substance: ARIPIPRAZOLE
     Dosage: 2 MILLIGRAM, QD (1 EVERY 1 DAYS)
     Route: 048
  564. ARIPIPRAZOLE [Suspect]
     Active Substance: ARIPIPRAZOLE
     Dosage: 2 MILLIGRAM, QD (1 EVERY 1 DAYS)
     Route: 048
  565. ARIPIPRAZOLE [Suspect]
     Active Substance: ARIPIPRAZOLE
     Dosage: 5 MILLIGRAM, QD (1 EVERY 1 DAYS)
  566. ARIPIPRAZOLE [Suspect]
     Active Substance: ARIPIPRAZOLE
     Dosage: 5 MILLIGRAM, QD (1 EVERY 1 DAYS)
     Route: 065
  567. ARIPIPRAZOLE [Suspect]
     Active Substance: ARIPIPRAZOLE
     Dosage: 5 MILLIGRAM, QD (1 EVERY 1 DAYS)
  568. ARIPIPRAZOLE [Suspect]
     Active Substance: ARIPIPRAZOLE
     Dosage: 5 MILLIGRAM, QD (1 EVERY 1 DAYS)
     Route: 065
  569. TYLENOL EXTRA STRENGTH [Suspect]
     Active Substance: ACETAMINOPHEN
     Indication: Back pain
     Dosage: 400 MILLIGRAM, BID (1 EVERY 12 HOURS)
  570. TYLENOL EXTRA STRENGTH [Suspect]
     Active Substance: ACETAMINOPHEN
     Dosage: 400 MILLIGRAM, BID (1 EVERY 12 HOURS)
     Route: 048
  571. TYLENOL EXTRA STRENGTH [Suspect]
     Active Substance: ACETAMINOPHEN
     Dosage: 400 MILLIGRAM, BID (1 EVERY 12 HOURS)
     Route: 048
  572. TYLENOL EXTRA STRENGTH [Suspect]
     Active Substance: ACETAMINOPHEN
     Dosage: 400 MILLIGRAM, BID (1 EVERY 12 HOURS)
  573. MONTELUKAST SODIUM [Suspect]
     Active Substance: MONTELUKAST SODIUM
     Indication: Product used for unknown indication
     Dosage: 10 MILLIGRAM, QD (1 EVERY 1 DAYS)
  574. MONTELUKAST SODIUM [Suspect]
     Active Substance: MONTELUKAST SODIUM
     Dosage: 10 MILLIGRAM, QD (1 EVERY 1 DAYS)
     Route: 048
  575. MONTELUKAST SODIUM [Suspect]
     Active Substance: MONTELUKAST SODIUM
     Dosage: 10 MILLIGRAM, QD (1 EVERY 1 DAYS)
     Route: 048
  576. MONTELUKAST SODIUM [Suspect]
     Active Substance: MONTELUKAST SODIUM
     Dosage: 10 MILLIGRAM, QD (1 EVERY 1 DAYS)
  577. POLYETHYLENE GLYCOL\POTASSIUM CHLORIDE\SODIUM BICARBONATE [Concomitant]
     Active Substance: POLYETHYLENE GLYCOL\POTASSIUM CHLORIDE\SODIUM BICARBONATE
     Indication: Product used for unknown indication
  578. POLYETHYLENE GLYCOL\POTASSIUM CHLORIDE\SODIUM BICARBONATE [Concomitant]
     Active Substance: POLYETHYLENE GLYCOL\POTASSIUM CHLORIDE\SODIUM BICARBONATE
     Route: 065
  579. POLYETHYLENE GLYCOL\POTASSIUM CHLORIDE\SODIUM BICARBONATE [Concomitant]
     Active Substance: POLYETHYLENE GLYCOL\POTASSIUM CHLORIDE\SODIUM BICARBONATE
     Route: 065
  580. POLYETHYLENE GLYCOL\POTASSIUM CHLORIDE\SODIUM BICARBONATE [Concomitant]
     Active Substance: POLYETHYLENE GLYCOL\POTASSIUM CHLORIDE\SODIUM BICARBONATE
  581. POLYETHYLENE GLYCOL 3350\POTASSIUM CHLORIDE\SODIUM BICARBONATE\SODIUM [Concomitant]
     Active Substance: POLYETHYLENE GLYCOL 3350\POTASSIUM CHLORIDE\SODIUM BICARBONATE\SODIUM CHLORIDE
     Indication: Product used for unknown indication
  582. POLYETHYLENE GLYCOL 3350\POTASSIUM CHLORIDE\SODIUM BICARBONATE\SODIUM [Concomitant]
     Active Substance: POLYETHYLENE GLYCOL 3350\POTASSIUM CHLORIDE\SODIUM BICARBONATE\SODIUM CHLORIDE
     Route: 065
  583. POLYETHYLENE GLYCOL 3350\POTASSIUM CHLORIDE\SODIUM BICARBONATE\SODIUM [Concomitant]
     Active Substance: POLYETHYLENE GLYCOL 3350\POTASSIUM CHLORIDE\SODIUM BICARBONATE\SODIUM CHLORIDE
     Route: 065
  584. POLYETHYLENE GLYCOL 3350\POTASSIUM CHLORIDE\SODIUM BICARBONATE\SODIUM [Concomitant]
     Active Substance: POLYETHYLENE GLYCOL 3350\POTASSIUM CHLORIDE\SODIUM BICARBONATE\SODIUM CHLORIDE

REACTIONS (16)
  - Drug dependence [Recovered/Resolved]
  - Epidural lipomatosis [Recovered/Resolved]
  - Juvenile idiopathic arthritis [Recovered/Resolved]
  - Obesity [Recovered/Resolved]
  - Tenderness [Recovered/Resolved]
  - Respiratory depression [Recovered/Resolved]
  - Drug abuse [Recovered/Resolved]
  - Child abuse [Recovered/Resolved]
  - Drug ineffective [Recovered/Resolved]
  - Intentional product misuse [Recovered/Resolved]
  - Product prescribing error [Recovered/Resolved]
  - Product use in unapproved indication [Recovered/Resolved]
  - Product use issue [Recovered/Resolved]
  - Inappropriate schedule of product administration [Recovered/Resolved]
  - Off label use [Recovered/Resolved]
  - Victim of child abuse [Recovered/Resolved]
